FAERS Safety Report 25083262 (Version 11)
Quarter: 2025Q4

REPORT INFORMATION
  Report Type: Spontaneous
  Country: CA (occurrence: CA)
  Receive Date: 20250317
  Receipt Date: 20251106
  Transmission Date: 20260117
  Serious: Yes (Death, Life-Threatening, Hospitalization, Disabling, Other)
  Sender: Haleon PLC
  Company Number: CA-002147023-NVSC2025CA042013

PATIENT
  Age: 43 Year
  Sex: Female
  Weight: 97 kg

DRUGS (1028)
  1. DICLOFENAC SODIUM [Suspect]
     Active Substance: DICLOFENAC SODIUM
     Indication: Product used for unknown indication
     Dosage: 50 MG
     Route: 065
  2. DICLOFENAC SODIUM [Suspect]
     Active Substance: DICLOFENAC SODIUM
     Dosage: 50 MG
  3. DICLOFENAC SODIUM [Suspect]
     Active Substance: DICLOFENAC SODIUM
     Dosage: UNK
  4. SULFASALAZINE [Suspect]
     Active Substance: SULFASALAZINE
     Indication: Rheumatoid arthritis
     Dosage: UNK
     Route: 048
  5. SULFASALAZINE [Suspect]
     Active Substance: SULFASALAZINE
     Dosage: 1 G (1 EVERY 2 DAY)
     Route: 048
  6. SULFASALAZINE [Suspect]
     Active Substance: SULFASALAZINE
     Dosage: 1 G, QD
     Route: 048
  7. SULFASALAZINE [Suspect]
     Active Substance: SULFASALAZINE
     Dosage: 500 MG
     Route: 048
  8. SULFASALAZINE [Suspect]
     Active Substance: SULFASALAZINE
     Dosage: UNK
     Route: 065
  9. SULFASALAZINE [Suspect]
     Active Substance: SULFASALAZINE
     Dosage: 500 MG
     Route: 065
  10. SULFASALAZINE [Suspect]
     Active Substance: SULFASALAZINE
     Dosage: 250 MG, QD
     Route: 065
  11. SULFASALAZINE [Suspect]
     Active Substance: SULFASALAZINE
     Dosage: 1000 MG, QD
     Route: 048
  12. SULFASALAZINE [Suspect]
     Active Substance: SULFASALAZINE
     Dosage: 500 MG, QD
     Route: 065
  13. SULFASALAZINE [Suspect]
     Active Substance: SULFASALAZINE
     Dosage: 2 G, QD
     Route: 048
  14. SULFASALAZINE [Suspect]
     Active Substance: SULFASALAZINE
     Indication: Rheumatoid arthritis
     Dosage: 1 G
     Route: 048
  15. ADALIMUMAB [Suspect]
     Active Substance: ADALIMUMAB
     Indication: Rheumatoid arthritis
     Dosage: 40 MG, Q2W (1 EVERY 2 WEEKS)
     Route: 058
  16. ADALIMUMAB [Suspect]
     Active Substance: ADALIMUMAB
     Indication: Psoriatic arthropathy
     Dosage: 40 MG, QW
     Route: 058
  17. ADALIMUMAB [Suspect]
     Active Substance: ADALIMUMAB
     Dosage: 40 MG
     Route: 058
  18. ADALIMUMAB [Suspect]
     Active Substance: ADALIMUMAB
     Dosage: 40 MG
     Route: 058
  19. ADALIMUMAB [Suspect]
     Active Substance: ADALIMUMAB
     Dosage: 4 MG
     Route: 058
  20. ADALIMUMAB [Suspect]
     Active Substance: ADALIMUMAB
     Dosage: 40 MG
     Route: 065
  21. ADALIMUMAB [Suspect]
     Active Substance: ADALIMUMAB
     Dosage: UNK
     Route: 058
  22. ADALIMUMAB [Suspect]
     Active Substance: ADALIMUMAB
     Dosage: 40 MG
     Route: 058
  23. ADALIMUMAB [Suspect]
     Active Substance: ADALIMUMAB
     Dosage: UNK
     Route: 065
  24. ADALIMUMAB [Suspect]
     Active Substance: ADALIMUMAB
     Dosage: 40 MG
     Route: 048
  25. MYCOPHENOLATE MOFETIL [Suspect]
     Active Substance: MYCOPHENOLATE MOFETIL
     Indication: Rheumatoid arthritis
     Dosage: UNK
     Route: 065
  26. DICLOFENAC DIETHYLAMINE [Suspect]
     Active Substance: DICLOFENAC DIETHYLAMINE
     Indication: Product used for unknown indication
     Route: 065
  27. DICLOFENAC POTASSIUM [Suspect]
     Active Substance: DICLOFENAC POTASSIUM
     Indication: Product used for unknown indication
     Route: 065
  28. DICLOFENAC POTASSIUM [Suspect]
     Active Substance: DICLOFENAC POTASSIUM
     Route: 065
  29. DICLOFENAC POTASSIUM [Suspect]
     Active Substance: DICLOFENAC POTASSIUM
     Route: 047
  30. DICLOFENAC POTASSIUM [Suspect]
     Active Substance: DICLOFENAC POTASSIUM
     Route: 065
  31. DICLOFENAC POTASSIUM [Suspect]
     Active Substance: DICLOFENAC POTASSIUM
     Route: 065
  32. DICLOFENAC POTASSIUM [Suspect]
     Active Substance: DICLOFENAC POTASSIUM
     Route: 065
  33. DICLOFENAC POTASSIUM [Suspect]
     Active Substance: DICLOFENAC POTASSIUM
     Route: 065
  34. DICLOFENAC POTASSIUM [Suspect]
     Active Substance: DICLOFENAC POTASSIUM
     Route: 065
  35. DICLOFENAC POTASSIUM [Suspect]
     Active Substance: DICLOFENAC POTASSIUM
     Route: 065
  36. DICLOFENAC POTASSIUM [Suspect]
     Active Substance: DICLOFENAC POTASSIUM
     Route: 065
  37. DICLOFENAC POTASSIUM [Suspect]
     Active Substance: DICLOFENAC POTASSIUM
     Route: 065
  38. DICLOFENAC POTASSIUM [Suspect]
     Active Substance: DICLOFENAC POTASSIUM
     Indication: Product used for unknown indication
     Route: 065
  39. DICLOFENAC POTASSIUM [Suspect]
     Active Substance: DICLOFENAC POTASSIUM
     Route: 065
  40. DICLOFENAC POTASSIUM [Suspect]
     Active Substance: DICLOFENAC POTASSIUM
     Route: 065
  41. ERENUMAB [Suspect]
     Active Substance: ERENUMAB
     Indication: Migraine
     Route: 065
  42. CORTISONE [Suspect]
     Active Substance: CORTISONE
     Indication: Rheumatoid arthritis
     Dosage: UNK
     Route: 065
  43. CORTISONE [Suspect]
     Active Substance: CORTISONE
     Dosage: UNK
  44. CORTISONE [Suspect]
     Active Substance: CORTISONE
     Dosage: 25 MG (TOPICAL)
     Route: 065
  45. CORTISONE [Suspect]
     Active Substance: CORTISONE
     Dosage: UNK
     Route: 050
  46. CORTISONE [Suspect]
     Active Substance: CORTISONE
     Dosage: UNK
     Route: 050
  47. CORTISONE [Suspect]
     Active Substance: CORTISONE
     Dosage: UNK
     Route: 050
  48. CORTISONE [Suspect]
     Active Substance: CORTISONE
     Dosage: UNK
     Route: 050
  49. CORTISONE [Suspect]
     Active Substance: CORTISONE
     Dosage: UNK (TOPICAL)
     Route: 065
  50. CORTISONE [Suspect]
     Active Substance: CORTISONE
     Dosage: UNK, ROA: CUTANEOUS USE
  51. CORTISONE [Suspect]
     Active Substance: CORTISONE
     Dosage: UNK
     Route: 050
  52. CORTISONE [Suspect]
     Active Substance: CORTISONE
     Dosage: UNK
  53. CORTISONE [Suspect]
     Active Substance: CORTISONE
     Dosage: UNK
     Route: 065
  54. CORTISONE [Suspect]
     Active Substance: CORTISONE
     Dosage: UNK
     Route: 050
  55. CORTISONE [Suspect]
     Active Substance: CORTISONE
     Dosage: UNK
     Route: 050
  56. CORTISONE [Suspect]
     Active Substance: CORTISONE
     Dosage: UNK (TOPICAL)
  57. CORTISONE [Suspect]
     Active Substance: CORTISONE
     Dosage: UNK
     Route: 050
  58. CORTISONE [Suspect]
     Active Substance: CORTISONE
     Dosage: UNK
  59. CORTISONE [Suspect]
     Active Substance: CORTISONE
     Dosage: 25 MG
     Route: 065
  60. CORTISONE [Suspect]
     Active Substance: CORTISONE
     Dosage: ROA: CUTANEOUS USE
  61. CORTISONE [Suspect]
     Active Substance: CORTISONE
     Dosage: UNK
  62. CORTISONE [Suspect]
     Active Substance: CORTISONE
     Dosage: UNK
  63. CORTISONE [Suspect]
     Active Substance: CORTISONE
     Dosage: UNK
  64. CORTISONE [Suspect]
     Active Substance: CORTISONE
     Dosage: 25 MG
     Route: 065
  65. CORTISONE [Suspect]
     Active Substance: CORTISONE
     Dosage: UNK
     Route: 050
  66. CORTISONE [Suspect]
     Active Substance: CORTISONE
     Dosage: UNK
  67. CORTISONE [Suspect]
     Active Substance: CORTISONE
     Dosage: UNK
     Route: 050
  68. CORTISONE [Suspect]
     Active Substance: CORTISONE
     Dosage: UNK ROUTE: SUBCUTANEOUS
  69. CORTISONE [Suspect]
     Active Substance: CORTISONE
     Dosage: 25 MG (TOPICAL)
     Route: 065
  70. CORTISONE [Suspect]
     Active Substance: CORTISONE
     Dosage: UNK
  71. CORTISONE [Suspect]
     Active Substance: CORTISONE
     Dosage: UNK
  72. CORTISONE [Suspect]
     Active Substance: CORTISONE
     Dosage: UNK
  73. CORTISONE [Suspect]
     Active Substance: CORTISONE
     Dosage: UNK
  74. CORTISONE [Suspect]
     Active Substance: CORTISONE
     Dosage: UNK ROUTE: SUBCUTANEOUS
  75. CORTISONE [Suspect]
     Active Substance: CORTISONE
     Dosage: UNK
  76. CORTISONE [Suspect]
     Active Substance: CORTISONE
     Dosage: 25 MG (TOPICAL)
     Route: 065
  77. CORTISONE [Suspect]
     Active Substance: CORTISONE
     Dosage: UNK
  78. CORTISONE [Suspect]
     Active Substance: CORTISONE
     Dosage: UNK
  79. CORTISONE [Suspect]
     Active Substance: CORTISONE
     Dosage: 25 MG (TOPICAL)
     Route: 065
  80. CORTISONE [Suspect]
     Active Substance: CORTISONE
     Dosage: 25 MG (TOPICAL)
     Route: 065
  81. CORTISONE [Suspect]
     Active Substance: CORTISONE
     Dosage: 25 MG (TOPICAL)
     Route: 065
  82. CORTISONE [Suspect]
     Active Substance: CORTISONE
     Dosage: 25 MG
     Route: 065
  83. CORTISONE [Suspect]
     Active Substance: CORTISONE
     Dosage: 25 MG (TOPICAL)
     Route: 065
  84. CORTISONE [Suspect]
     Active Substance: CORTISONE
     Dosage: UNK
  85. CORTISONE [Suspect]
     Active Substance: CORTISONE
     Dosage: 25 MG
     Route: 065
  86. CORTISONE [Suspect]
     Active Substance: CORTISONE
     Dosage: 25 MG
     Route: 065
  87. CORTISONE [Suspect]
     Active Substance: CORTISONE
     Dosage: 25 MG (TOPICAL)
     Route: 065
  88. CORTISONE [Suspect]
     Active Substance: CORTISONE
     Dosage: UNK
  89. CORTISONE [Suspect]
     Active Substance: CORTISONE
     Dosage: 25 MG
     Route: 065
  90. CORTISONE [Suspect]
     Active Substance: CORTISONE
     Dosage: UNK
  91. CORTISONE [Suspect]
     Active Substance: CORTISONE
     Dosage: UNK, ROUTE: SUBCUTANEOUS
  92. CORTISONE [Suspect]
     Active Substance: CORTISONE
     Dosage: UNK
  93. CORTISONE [Suspect]
     Active Substance: CORTISONE
  94. RITUXIMAB [Suspect]
     Active Substance: RITUXIMAB
     Indication: Rheumatoid arthritis
     Dosage: UNK
     Route: 050
  95. RITUXIMAB [Suspect]
     Active Substance: RITUXIMAB
     Dosage: UNK ROUTE: SUBCUTANEOUS
  96. RITUXIMAB [Suspect]
     Active Substance: RITUXIMAB
     Dosage: UNK, INTRAVENOUS DRIP
  97. RITUXIMAB [Suspect]
     Active Substance: RITUXIMAB
     Dosage: UNK, ROA: INTRAVESICAL USE
  98. RITUXIMAB [Suspect]
     Active Substance: RITUXIMAB
     Dosage: UNK, ROUTE: INTRAVENOUS USE
  99. RITUXIMAB [Suspect]
     Active Substance: RITUXIMAB
     Dosage: UNK, ROUTE: INTRAVENOUS
  100. RITUXIMAB [Suspect]
     Active Substance: RITUXIMAB
     Dosage: UNK
  101. RITUXIMAB [Suspect]
     Active Substance: RITUXIMAB
     Dosage: UNK, ROUTE: INTRAVENOUS USE
  102. RITUXIMAB [Suspect]
     Active Substance: RITUXIMAB
     Dosage: UNK
     Route: 050
  103. RITUXIMAB [Suspect]
     Active Substance: RITUXIMAB
     Dosage: UNK
     Route: 050
  104. RITUXIMAB [Suspect]
     Active Substance: RITUXIMAB
     Dosage: UNK, ROUTE: INTRAVENOU
  105. RITUXIMAB [Suspect]
     Active Substance: RITUXIMAB
     Dosage: UNK
     Route: 050
  106. RITUXIMAB [Suspect]
     Active Substance: RITUXIMAB
     Dosage: UNK, ROUTE: SUBCUTANEOUS USE
  107. RITUXIMAB [Suspect]
     Active Substance: RITUXIMAB
     Dosage: 1 MG
     Route: 050
  108. RITUXIMAB [Suspect]
     Active Substance: RITUXIMAB
     Dosage: UNK ROUTE: INTRAVENOUS
  109. RITUXIMAB [Suspect]
     Active Substance: RITUXIMAB
     Dosage: 1000 MG, ROUTE: INTRAVENOUS
     Route: 050
  110. RITUXIMAB [Suspect]
     Active Substance: RITUXIMAB
     Dosage: UNK ROUTE: SUBCUTANEOUS
  111. RITUXIMAB [Suspect]
     Active Substance: RITUXIMAB
     Dosage: UNK
     Route: 042
  112. RITUXIMAB [Suspect]
     Active Substance: RITUXIMAB
     Dosage: UNK ROUTE: SUBCUTANEOUS
  113. RITUXIMAB [Suspect]
     Active Substance: RITUXIMAB
     Dosage: UNK ROUTE: SUBCUTANEOUS
  114. RITUXIMAB [Suspect]
     Active Substance: RITUXIMAB
     Dosage: UNK ROUTE: INTRAVENOUS
     Route: 050
  115. RITUXIMAB [Suspect]
     Active Substance: RITUXIMAB
     Dosage: UNK ROUTE: INTRAVENOUS USE
  116. RITUXIMAB [Suspect]
     Active Substance: RITUXIMAB
     Dosage: UNK, ROUTE: SUBCUTANEOUS
  117. RITUXIMAB [Suspect]
     Active Substance: RITUXIMAB
     Dosage: UNK, ROUTE: INTRAVENOUS
  118. RITUXIMAB [Suspect]
     Active Substance: RITUXIMAB
     Dosage: UNK, ROUTE: SUBCUTANEOUS
  119. RITUXIMAB [Suspect]
     Active Substance: RITUXIMAB
     Dosage: 1 MG, QD, ROUTE: INTRAVENOUS USE
     Route: 050
  120. RITUXIMAB [Suspect]
     Active Substance: RITUXIMAB
     Dosage: UNK, ROUTE: INTRAVENOUS USE
  121. RITUXIMAB [Suspect]
     Active Substance: RITUXIMAB
     Dosage: UNK ROUTE: SUBCUTANEOUS
  122. RITUXIMAB [Suspect]
     Active Substance: RITUXIMAB
     Dosage: UNK ROUTE: INTRAVESICAL
  123. RITUXIMAB [Suspect]
     Active Substance: RITUXIMAB
     Dosage: 365 MG
     Route: 065
  124. RITUXIMAB [Suspect]
     Active Substance: RITUXIMAB
     Dosage: 1000 MG, QD
     Route: 050
  125. COSENTYX [Suspect]
     Active Substance: SECUKINUMAB
     Indication: Psoriatic arthropathy
     Dosage: UNK
     Route: 050
  126. COSENTYX [Suspect]
     Active Substance: SECUKINUMAB
     Dosage: UNK
  127. COSENTYX [Suspect]
     Active Substance: SECUKINUMAB
     Dosage: UNK
  128. COSENTYX [Suspect]
     Active Substance: SECUKINUMAB
     Dosage: ROA: ENDOCERVICAL USE
  129. COSENTYX [Suspect]
     Active Substance: SECUKINUMAB
     Dosage: UNK
  130. COSENTYX [Suspect]
     Active Substance: SECUKINUMAB
     Dosage: ROA: PARENTERAL
  131. COSENTYX [Suspect]
     Active Substance: SECUKINUMAB
     Dosage: UNK, INTRAVENOUS USE
  132. COSENTYX [Suspect]
     Active Substance: SECUKINUMAB
     Dosage: UNK
  133. COSENTYX [Suspect]
     Active Substance: SECUKINUMAB
  134. COSENTYX [Suspect]
     Active Substance: SECUKINUMAB
     Dosage: UNK
     Route: 050
  135. AIMOVIG [Suspect]
     Active Substance: ERENUMAB-AOOE
     Indication: Rheumatoid arthritis
     Dosage: UNK
  136. AIMOVIG [Suspect]
     Active Substance: ERENUMAB-AOOE
     Indication: Migraine
     Dosage: UNK, SOLUTION FOR INJECTION
  137. AIMOVIG [Suspect]
     Active Substance: ERENUMAB-AOOE
     Dosage: UNK
  138. AIMOVIG [Suspect]
     Active Substance: ERENUMAB-AOOE
     Dosage: UNK, SOLUTION FOR INJECTION
  139. AIMOVIG [Suspect]
     Active Substance: ERENUMAB-AOOE
     Dosage: UNK, SOLUTION FOR INJECTION
  140. AIMOVIG [Suspect]
     Active Substance: ERENUMAB-AOOE
     Dosage: UNK
  141. AIMOVIG [Suspect]
     Active Substance: ERENUMAB-AOOE
     Dosage: UNK
  142. AIMOVIG [Suspect]
     Active Substance: ERENUMAB-AOOE
     Dosage: UNK
  143. ERELZI [Suspect]
     Active Substance: ETANERCEPT-SZZS
     Indication: Rheumatoid arthritis
     Dosage: UNK
  144. ERELZI [Suspect]
     Active Substance: ETANERCEPT-SZZS
     Dosage: 20 MG, QW, ROA: UNK
  145. ERELZI [Suspect]
     Active Substance: ETANERCEPT-SZZS
     Dosage: 25 MG, ROA: UNKNOWN
  146. ERELZI [Suspect]
     Active Substance: ETANERCEPT-SZZS
     Dosage: UNK, ROA: SUBDERMAL
  147. ERELZI [Suspect]
     Active Substance: ETANERCEPT-SZZS
     Dosage: ROA: SUBDERMAL
  148. ERELZI [Suspect]
     Active Substance: ETANERCEPT-SZZS
     Dosage: UNK, ROUTE: SUBCUTANEOUS USE
  149. ERELZI [Suspect]
     Active Substance: ETANERCEPT-SZZS
     Dosage: UNK
  150. ERELZI [Suspect]
     Active Substance: ETANERCEPT-SZZS
     Dosage: UNK, ROA: UNKNOWN
  151. ERELZI [Suspect]
     Active Substance: ETANERCEPT-SZZS
     Dosage: UNK
     Route: 050
  152. ERELZI [Suspect]
     Active Substance: ETANERCEPT-SZZS
     Dosage: UNK
  153. ERELZI [Suspect]
     Active Substance: ETANERCEPT-SZZS
     Dosage: 25 MG, QW
  154. ERELZI [Suspect]
     Active Substance: ETANERCEPT-SZZS
     Dosage: UNK
  155. ERELZI [Suspect]
     Active Substance: ETANERCEPT-SZZS
     Dosage: UNK
  156. ERELZI [Suspect]
     Active Substance: ETANERCEPT-SZZS
     Dosage: UNK, SUBDERMAL
  157. ERELZI [Suspect]
     Active Substance: ETANERCEPT-SZZS
     Dosage: UNK
  158. ERELZI [Suspect]
     Active Substance: ETANERCEPT-SZZS
     Dosage: 50 MG, ROUTE: SUBCUTANEOUS USE
     Route: 050
  159. ERELZI [Suspect]
     Active Substance: ETANERCEPT-SZZS
     Dosage: 25 MG,  ROA: UNKNOWN
  160. ERELZI [Suspect]
     Active Substance: ETANERCEPT-SZZS
     Dosage: UNK
  161. ERELZI [Suspect]
     Active Substance: ETANERCEPT-SZZS
     Dosage: 25 MG, ROA: UNKNOWN
  162. ERELZI [Suspect]
     Active Substance: ETANERCEPT-SZZS
     Dosage: UNK, ROUTE: SUBCUTANEOUS USE
  163. ERELZI [Suspect]
     Active Substance: ETANERCEPT-SZZS
     Dosage: UNK, QW, ROUTE: SUBCUTANEOUS USE
     Route: 050
  164. ERELZI [Suspect]
     Active Substance: ETANERCEPT-SZZS
     Dosage: 50 MG, QW, ROUTE: SUBCUTANEOUS USE
     Route: 050
  165. ERELZI [Suspect]
     Active Substance: ETANERCEPT-SZZS
     Dosage: 25 MG, ROA: UNKNOWN
     Route: 065
  166. ERELZI [Suspect]
     Active Substance: ETANERCEPT-SZZS
     Dosage: UNK, ROUTE: SUBCUTANEOUS USE
  167. ERELZI [Suspect]
     Active Substance: ETANERCEPT-SZZS
     Dosage: 50 MG, ROA: UNKNOWN
     Route: 065
  168. ERELZI [Suspect]
     Active Substance: ETANERCEPT-SZZS
     Dosage: 50 MG ROUTE: SUBCUTANEOUS USE
     Route: 050
  169. ERELZI [Suspect]
     Active Substance: ETANERCEPT-SZZS
     Dosage: 12.5 MG, QW, ROA: UNKNOWN
     Route: 065
  170. ERELZI [Suspect]
     Active Substance: ETANERCEPT-SZZS
     Dosage: 25 MG, ROA: UNKNOWN
     Route: 065
  171. ERELZI [Suspect]
     Active Substance: ETANERCEPT-SZZS
     Dosage: 50 MG
     Route: 065
  172. ERELZI [Suspect]
     Active Substance: ETANERCEPT-SZZS
     Dosage: UNK
     Route: 050
  173. ERELZI [Suspect]
     Active Substance: ETANERCEPT-SZZS
     Dosage: UNK ROUTE: SUBCUTANEOUS USE
  174. ERELZI [Suspect]
     Active Substance: ETANERCEPT-SZZS
     Dosage: 25 MG, ROA: UNKNOWN
     Route: 065
  175. ERELZI [Suspect]
     Active Substance: ETANERCEPT-SZZS
     Dosage: 12.5 MG, ROA: UNKNOWN
     Route: 065
  176. ERELZI [Suspect]
     Active Substance: ETANERCEPT-SZZS
     Dosage: 50 MG, SUBCUTANEOUS USE
     Route: 050
  177. HYRIMOZ [Suspect]
     Active Substance: ADALIMUMAB-ADAZ
     Indication: Rheumatoid arthritis
     Dosage: 40 MG, SUBCONJUNCTIVAL
     Route: 050
  178. HYRIMOZ [Suspect]
     Active Substance: ADALIMUMAB-ADAZ
     Indication: Psoriatic arthropathy
     Dosage: UNK
     Route: 050
  179. HYRIMOZ [Suspect]
     Active Substance: ADALIMUMAB-ADAZ
     Dosage: UNK
     Route: 050
  180. HYRIMOZ [Suspect]
     Active Substance: ADALIMUMAB-ADAZ
     Dosage: UNK
     Route: 050
  181. HYRIMOZ [Suspect]
     Active Substance: ADALIMUMAB-ADAZ
     Dosage: UNK, SUBCUTANEOUS USE
  182. HYRIMOZ [Suspect]
     Active Substance: ADALIMUMAB-ADAZ
     Dosage: UNK
     Route: 050
  183. HYRIMOZ [Suspect]
     Active Substance: ADALIMUMAB-ADAZ
     Dosage: UNK
     Route: 050
  184. HYRIMOZ [Suspect]
     Active Substance: ADALIMUMAB-ADAZ
     Dosage: UNK, SUBCUTANEOUS USE
  185. HYRIMOZ [Suspect]
     Active Substance: ADALIMUMAB-ADAZ
     Dosage: 40 MG
     Route: 050
  186. HYRIMOZ [Suspect]
     Active Substance: ADALIMUMAB-ADAZ
     Dosage: 40 MG, Q2W, SUBCUTANEOUS USE
     Route: 050
  187. HYRIMOZ [Suspect]
     Active Substance: ADALIMUMAB-ADAZ
     Dosage: 40 MG, QW, SUBCUTANEOUS USE
     Route: 050
  188. HYRIMOZ [Suspect]
     Active Substance: ADALIMUMAB-ADAZ
     Dosage: 40 MG, SUBCUTANEOUS USE
     Route: 050
  189. HYRIMOZ [Suspect]
     Active Substance: ADALIMUMAB-ADAZ
     Dosage: 4 MG, SUBCUTANEOUS USE
     Route: 050
  190. HYRIMOZ [Suspect]
     Active Substance: ADALIMUMAB-ADAZ
     Dosage: UNK
     Route: 050
  191. HYRIMOZ [Suspect]
     Active Substance: ADALIMUMAB-ADAZ
     Dosage: UNK, SUBCONJUNCTIVAL USE
  192. HYRIMOZ [Suspect]
     Active Substance: ADALIMUMAB-ADAZ
     Dosage: 40 MG, SUBCUTANEOUS USE
     Route: 050
  193. HYRIMOZ [Suspect]
     Active Substance: ADALIMUMAB-ADAZ
     Dosage: 40 MG, SUBCUTANEOUS USE
     Route: 050
  194. HYRIMOZ [Suspect]
     Active Substance: ADALIMUMAB-ADAZ
     Dosage: 40 MG, SUBCONJUNCTIVAL USE
     Route: 050
  195. HYRIMOZ [Suspect]
     Active Substance: ADALIMUMAB-ADAZ
     Dosage: 40 MG, SUBCUTANEOUS USE
     Route: 050
  196. HYRIMOZ [Suspect]
     Active Substance: ADALIMUMAB-ADAZ
     Dosage: 40 MG, SUBCUTANEOUS USE
     Route: 050
  197. HYRIMOZ [Suspect]
     Active Substance: ADALIMUMAB-ADAZ
     Dosage: 4 MG, SUBCUTANEOUS USE
     Route: 050
  198. TOFACITINIB [Suspect]
     Active Substance: TOFACITINIB
     Indication: Rheumatoid arthritis
     Dosage: 5 MG, QD
  199. LEFLUNOMIDE [Suspect]
     Active Substance: LEFLUNOMIDE
     Indication: Rheumatoid arthritis
     Dosage: 20 MG, QD
     Route: 048
  200. LEFLUNOMIDE [Suspect]
     Active Substance: LEFLUNOMIDE
     Dosage: 10 MG, QD
     Route: 065
  201. LEFLUNOMIDE [Suspect]
     Active Substance: LEFLUNOMIDE
     Dosage: UNK
     Route: 065
  202. LEFLUNOMIDE [Suspect]
     Active Substance: LEFLUNOMIDE
     Dosage: UNK
     Route: 050
  203. LEFLUNOMIDE [Suspect]
     Active Substance: LEFLUNOMIDE
     Dosage: UNK
     Route: 050
  204. LEFLUNOMIDE [Suspect]
     Active Substance: LEFLUNOMIDE
     Dosage: UNK
     Route: 048
  205. LEFLUNOMIDE [Suspect]
     Active Substance: LEFLUNOMIDE
     Dosage: UNK
  206. LEFLUNOMIDE [Suspect]
     Active Substance: LEFLUNOMIDE
     Dosage: UNK
     Route: 050
  207. LEFLUNOMIDE [Suspect]
     Active Substance: LEFLUNOMIDE
     Dosage: UNK
     Route: 048
  208. LEFLUNOMIDE [Suspect]
     Active Substance: LEFLUNOMIDE
     Dosage: 20 MG
     Route: 065
  209. LEFLUNOMIDE [Suspect]
     Active Substance: LEFLUNOMIDE
     Dosage: UNK
     Route: 048
  210. LEFLUNOMIDE [Suspect]
     Active Substance: LEFLUNOMIDE
     Dosage: UNK
  211. LEFLUNOMIDE [Suspect]
     Active Substance: LEFLUNOMIDE
     Dosage: UNK
  212. LEFLUNOMIDE [Suspect]
     Active Substance: LEFLUNOMIDE
     Dosage: 20 MG
  213. LEFLUNOMIDE [Suspect]
     Active Substance: LEFLUNOMIDE
     Dosage: UNK
     Route: 050
  214. LEFLUNOMIDE [Suspect]
     Active Substance: LEFLUNOMIDE
     Dosage: UNK
  215. METHOTREXATE SODIUM [Suspect]
     Active Substance: METHOTREXATE SODIUM
     Indication: Rheumatoid arthritis
     Dosage: 25 MG, QW, INTRAARTERIAL USE
     Route: 050
  216. METHOTREXATE SODIUM [Suspect]
     Active Substance: METHOTREXATE SODIUM
     Dosage: 20 MG, QD, ORAL ROUTE
     Route: 065
  217. METHOTREXATE SODIUM [Suspect]
     Active Substance: METHOTREXATE SODIUM
     Dosage: 25 MG, QW, SUBCUTANEOUS ROUTE
     Route: 050
  218. METHOTREXATE SODIUM [Suspect]
     Active Substance: METHOTREXATE SODIUM
     Dosage: 25 MG, QD ORAL ROUTE
     Route: 050
  219. METHOTREXATE SODIUM [Suspect]
     Active Substance: METHOTREXATE SODIUM
     Dosage: 20 MG, QW
     Route: 065
  220. METHOTREXATE SODIUM [Suspect]
     Active Substance: METHOTREXATE SODIUM
     Dosage: 20 MG, QD
     Route: 050
  221. METHOTREXATE SODIUM [Suspect]
     Active Substance: METHOTREXATE SODIUM
     Dosage: 25 MG, QW, SUBCUTANEOUS ROUTE
     Route: 050
  222. METHOTREXATE SODIUM [Suspect]
     Active Substance: METHOTREXATE SODIUM
     Dosage: 15 MG, QD, ORAL USE
     Route: 050
  223. METHOTREXATE SODIUM [Suspect]
     Active Substance: METHOTREXATE SODIUM
     Dosage: UNK
  224. METHOTREXATE SODIUM [Suspect]
     Active Substance: METHOTREXATE SODIUM
     Dosage: UNK
  225. METHOTREXATE SODIUM [Suspect]
     Active Substance: METHOTREXATE SODIUM
     Dosage: UNK
  226. METHOTREXATE SODIUM [Suspect]
     Active Substance: METHOTREXATE SODIUM
     Dosage: UNK
  227. METHOTREXATE SODIUM [Suspect]
     Active Substance: METHOTREXATE SODIUM
     Dosage: UNK
  228. METHOTREXATE SODIUM [Suspect]
     Active Substance: METHOTREXATE SODIUM
     Dosage: UNK
     Route: 065
  229. METHOTREXATE SODIUM [Suspect]
     Active Substance: METHOTREXATE SODIUM
     Dosage: UNK
  230. DILTIAZEM HYDROCHLORIDE [Suspect]
     Active Substance: DILTIAZEM HYDROCHLORIDE
     Indication: Product used for unknown indication
     Dosage: UNK
     Route: 050
  231. DILTIAZEM HYDROCHLORIDE [Suspect]
     Active Substance: DILTIAZEM HYDROCHLORIDE
     Dosage: UNK
     Route: 050
  232. DILTIAZEM HYDROCHLORIDE [Suspect]
     Active Substance: DILTIAZEM HYDROCHLORIDE
     Dosage: UNK
     Route: 002
  233. DILTIAZEM HYDROCHLORIDE [Suspect]
     Active Substance: DILTIAZEM HYDROCHLORIDE
     Dosage: UNK
     Route: 002
  234. CETIRIZINE HYDROCHLORIDE AND PSEUDOEPHEDRINE HYDROCHLORIDE [Suspect]
     Active Substance: CETIRIZINE HYDROCHLORIDE\PSEUDOEPHEDRINE HYDROCHLORIDE
     Indication: Rheumatoid arthritis
     Dosage: UNK
  235. CETIRIZINE HYDROCHLORIDE AND PSEUDOEPHEDRINE HYDROCHLORIDE [Suspect]
     Active Substance: CETIRIZINE HYDROCHLORIDE\PSEUDOEPHEDRINE HYDROCHLORIDE
     Dosage: 10 MG, Q24H, ORAL USE
  236. CETIRIZINE HYDROCHLORIDE AND PSEUDOEPHEDRINE HYDROCHLORIDE [Suspect]
     Active Substance: CETIRIZINE HYDROCHLORIDE\PSEUDOEPHEDRINE HYDROCHLORIDE
     Dosage: UNK
  237. CETIRIZINE HYDROCHLORIDE AND PSEUDOEPHEDRINE HYDROCHLORIDE [Suspect]
     Active Substance: CETIRIZINE HYDROCHLORIDE\PSEUDOEPHEDRINE HYDROCHLORIDE
     Dosage: UNK
  238. CETIRIZINE HYDROCHLORIDE AND PSEUDOEPHEDRINE HYDROCHLORIDE [Suspect]
     Active Substance: CETIRIZINE HYDROCHLORIDE\PSEUDOEPHEDRINE HYDROCHLORIDE
     Dosage: 25 MG
  239. IODINE [Suspect]
     Active Substance: IODINE
     Indication: Product used for unknown indication
     Dosage: UNK
     Route: 065
  240. IODINE [Suspect]
     Active Substance: IODINE
     Dosage: UNK
  241. CETIRIZINE HYDROCHLORIDE [Suspect]
     Active Substance: CETIRIZINE HYDROCHLORIDE
     Indication: Rheumatoid arthritis
     Dosage: 25 MG, ENDOCERVICAL USE
     Route: 065
  242. CETIRIZINE HYDROCHLORIDE [Suspect]
     Active Substance: CETIRIZINE HYDROCHLORIDE
     Dosage: 25 MG, ROA: ENDOCERVICAL USE
     Route: 050
  243. CETIRIZINE HYDROCHLORIDE [Suspect]
     Active Substance: CETIRIZINE HYDROCHLORIDE
     Dosage: UNK
     Route: 050
  244. CETIRIZINE HYDROCHLORIDE [Suspect]
     Active Substance: CETIRIZINE HYDROCHLORIDE
     Dosage: UNK
     Route: 050
  245. CETIRIZINE HYDROCHLORIDE [Suspect]
     Active Substance: CETIRIZINE HYDROCHLORIDE
     Dosage: UNK
     Route: 065
  246. CETIRIZINE HYDROCHLORIDE [Suspect]
     Active Substance: CETIRIZINE HYDROCHLORIDE
     Dosage: UNK
  247. CETIRIZINE HYDROCHLORIDE [Suspect]
     Active Substance: CETIRIZINE HYDROCHLORIDE
     Dosage: 10 MG
     Route: 065
  248. CETIRIZINE HYDROCHLORIDE [Suspect]
     Active Substance: CETIRIZINE HYDROCHLORIDE
     Dosage: UNK
  249. CETIRIZINE HYDROCHLORIDE [Suspect]
     Active Substance: CETIRIZINE HYDROCHLORIDE
     Dosage: UNK
  250. CETIRIZINE HYDROCHLORIDE [Suspect]
     Active Substance: CETIRIZINE HYDROCHLORIDE
     Dosage: 10 MG
     Route: 050
  251. CETIRIZINE HYDROCHLORIDE [Suspect]
     Active Substance: CETIRIZINE HYDROCHLORIDE
     Dosage: 25 MG
     Route: 065
  252. CETIRIZINE HYDROCHLORIDE [Suspect]
     Active Substance: CETIRIZINE HYDROCHLORIDE
     Dosage: UNK
  253. CETIRIZINE HYDROCHLORIDE [Suspect]
     Active Substance: CETIRIZINE HYDROCHLORIDE
     Dosage: 10 MG, ROA: INTRACARDIAC USE
     Route: 050
  254. CETIRIZINE HYDROCHLORIDE [Suspect]
     Active Substance: CETIRIZINE HYDROCHLORIDE
     Dosage: 10 MG
     Route: 050
  255. CETIRIZINE HYDROCHLORIDE [Suspect]
     Active Substance: CETIRIZINE HYDROCHLORIDE
     Dosage: UNK
  256. CETIRIZINE HYDROCHLORIDE [Suspect]
     Active Substance: CETIRIZINE HYDROCHLORIDE
     Dosage: UNK
  257. CETIRIZINE HYDROCHLORIDE [Suspect]
     Active Substance: CETIRIZINE HYDROCHLORIDE
     Dosage: 10 MG, INTRACARDIAC USE
     Route: 065
  258. CETIRIZINE HYDROCHLORIDE [Suspect]
     Active Substance: CETIRIZINE HYDROCHLORIDE
     Dosage: UNK
  259. CETIRIZINE HYDROCHLORIDE [Suspect]
     Active Substance: CETIRIZINE HYDROCHLORIDE
     Dosage: UNK
  260. CETIRIZINE HYDROCHLORIDE [Suspect]
     Active Substance: CETIRIZINE HYDROCHLORIDE
     Dosage: UNK
     Route: 065
  261. CETIRIZINE HYDROCHLORIDE [Suspect]
     Active Substance: CETIRIZINE HYDROCHLORIDE
  262. CETIRIZINE HYDROCHLORIDE [Suspect]
     Active Substance: CETIRIZINE HYDROCHLORIDE
     Dosage: 20 MG
     Route: 065
  263. NAPROXEN [Suspect]
     Active Substance: NAPROXEN
     Indication: Rheumatoid arthritis
     Route: 050
  264. METHOTREXATE [Suspect]
     Active Substance: METHOTREXATE
     Indication: Rheumatoid arthritis
     Dosage: UNK, QD, UNKNOWN
     Route: 065
  265. METHOTREXATE [Suspect]
     Active Substance: METHOTREXATE
     Dosage: 20 MG, QW
     Route: 065
  266. METHOTREXATE [Suspect]
     Active Substance: METHOTREXATE
     Dosage: 25 MG, QW, SUBCUTANEOUS USE, ROA: INTRAARTERIAL USE
     Route: 050
  267. METHOTREXATE [Suspect]
     Active Substance: METHOTREXATE
     Dosage: 25 MG, QW, SUBCUTANEOUS USE
     Route: 050
  268. METHOTREXATE [Suspect]
     Active Substance: METHOTREXATE
     Dosage: 20 MG, QD, UNK ROUTE
     Route: 065
  269. METHOTREXATE [Suspect]
     Active Substance: METHOTREXATE
     Dosage: 15 MG, QD
     Route: 050
  270. METHOTREXATE [Suspect]
     Active Substance: METHOTREXATE
     Dosage: 20 MG, QD
     Route: 050
  271. METHOTREXATE [Suspect]
     Active Substance: METHOTREXATE
     Dosage: 25 MG, QD
     Route: 050
  272. METHOTREXATE [Suspect]
     Active Substance: METHOTREXATE
     Dosage: 25 MG, QW, INTRAARTERIAL USE
     Route: 050
  273. METHOTREXATE [Suspect]
     Active Substance: METHOTREXATE
     Dosage: 1 G
     Route: 050
  274. METHOTREXATE [Suspect]
     Active Substance: METHOTREXATE
     Dosage: 2 DOSAGE FORM
     Route: 050
  275. METHOTREXATE [Suspect]
     Active Substance: METHOTREXATE
     Dosage: 25 MG
     Route: 050
  276. METHOTREXATE [Suspect]
     Active Substance: METHOTREXATE
     Dosage: 15 MG, QD, INJECTION, USP
     Route: 050
  277. METHOTREXATE [Suspect]
     Active Substance: METHOTREXATE
     Dosage: 25 MG, INJECTION, USP
     Route: 050
  278. METHOTREXATE [Suspect]
     Active Substance: METHOTREXATE
     Dosage: 15 MG, QD
  279. METHOTREXATE [Suspect]
     Active Substance: METHOTREXATE
     Dosage: 25 MG, INJECTION, USP
  280. METHOTREXATE [Suspect]
     Active Substance: METHOTREXATE
     Dosage: UNK
  281. METHOTREXATE [Suspect]
     Active Substance: METHOTREXATE
     Dosage: 20 MG, QW, INJECTION, USP, SOLUTION INTRA- ARTERIAL
     Route: 050
  282. METHOTREXATE [Suspect]
     Active Substance: METHOTREXATE
     Dosage: 25 MG, QD, INJECTION, USP
     Route: 050
  283. METHOTREXATE [Suspect]
     Active Substance: METHOTREXATE
     Dosage: 20 MG, QD, INJECTION, USP
  284. METHOTREXATE [Suspect]
     Active Substance: METHOTREXATE
     Dosage: 2 DOSAGE FORM
     Route: 050
  285. METHOTREXATE [Suspect]
     Active Substance: METHOTREXATE
     Dosage: UNK
  286. METHOTREXATE [Suspect]
     Active Substance: METHOTREXATE
     Dosage: 20 MG
  287. METHOTREXATE [Suspect]
     Active Substance: METHOTREXATE
     Dosage: 25 MG
     Route: 050
  288. METHOTREXATE [Suspect]
     Active Substance: METHOTREXATE
     Dosage: 25 MG
  289. METHOTREXATE [Suspect]
     Active Substance: METHOTREXATE
     Dosage: 2 DOSAGE FORM
     Route: 050
  290. METHOTREXATE [Suspect]
     Active Substance: METHOTREXATE
     Dosage: 25 G
     Route: 050
  291. METHOTREXATE [Suspect]
     Active Substance: METHOTREXATE
     Dosage: 20 MG, QD
  292. METHOTREXATE [Suspect]
     Active Substance: METHOTREXATE
     Dosage: 1 DOSAGE FORM
     Route: 050
  293. METHOTREXATE [Suspect]
     Active Substance: METHOTREXATE
     Dosage: 25 MG
     Route: 050
  294. METHOTREXATE [Suspect]
     Active Substance: METHOTREXATE
     Dosage: 25 G, QW
     Route: 050
  295. METHOTREXATE [Suspect]
     Active Substance: METHOTREXATE
     Dosage: 1 DOSAGE FORM
     Route: 050
  296. METHOTREXATE [Suspect]
     Active Substance: METHOTREXATE
     Dosage: 20 MG, QD
     Route: 050
  297. METHOTREXATE [Suspect]
     Active Substance: METHOTREXATE
     Dosage: 25 MG
  298. METHOTREXATE [Suspect]
     Active Substance: METHOTREXATE
     Dosage: 25 G, QD
  299. METHOTREXATE [Suspect]
     Active Substance: METHOTREXATE
     Dosage: 25 G, QD
     Route: 050
  300. METHOTREXATE [Suspect]
     Active Substance: METHOTREXATE
     Dosage: 25 MG, QD
     Route: 050
  301. CALCIUM [Concomitant]
     Active Substance: CALCIUM
     Indication: Product used for unknown indication
     Dosage: UNK
     Route: 065
  302. CALCIUM [Concomitant]
     Active Substance: CALCIUM
     Dosage: UNK
  303. CALCIUM [Concomitant]
     Active Substance: CALCIUM
     Dosage: 50 MG
  304. DEXAMETHASONE SODIUM PHOSPHATE [Suspect]
     Active Substance: DEXAMETHASONE SODIUM PHOSPHATE
     Indication: Rheumatoid arthritis
     Dosage: UNK
     Route: 050
  305. DEXAMETHASONE SODIUM PHOSPHATE [Suspect]
     Active Substance: DEXAMETHASONE SODIUM PHOSPHATE
     Dosage: UNK
     Route: 050
  306. DEXAMETHASONE SODIUM PHOSPHATE [Suspect]
     Active Substance: DEXAMETHASONE SODIUM PHOSPHATE
     Dosage: UNK
     Route: 050
  307. DEXAMETHASONE SODIUM PHOSPHATE [Suspect]
     Active Substance: DEXAMETHASONE SODIUM PHOSPHATE
     Dosage: UNK
     Route: 050
  308. DEXAMETHASONE SODIUM PHOSPHATE [Suspect]
     Active Substance: DEXAMETHASONE SODIUM PHOSPHATE
     Dosage: UNK
     Route: 065
  309. DEXAMETHASONE SODIUM PHOSPHATE [Suspect]
     Active Substance: DEXAMETHASONE SODIUM PHOSPHATE
     Dosage: UNK
  310. DEXAMETHASONE SODIUM PHOSPHATE [Suspect]
     Active Substance: DEXAMETHASONE SODIUM PHOSPHATE
     Dosage: UNK
     Route: 050
  311. DEXAMETHASONE SODIUM PHOSPHATE [Suspect]
     Active Substance: DEXAMETHASONE SODIUM PHOSPHATE
     Dosage: UNK, SOLUTION FOR INJECTION
     Route: 050
  312. DEXAMETHASONE SODIUM PHOSPHATE [Suspect]
     Active Substance: DEXAMETHASONE SODIUM PHOSPHATE
     Dosage: UNK
     Route: 050
  313. DEXAMETHASONE SODIUM PHOSPHATE [Suspect]
     Active Substance: DEXAMETHASONE SODIUM PHOSPHATE
     Dosage: UNK
     Route: 050
  314. DEXAMETHASONE SODIUM PHOSPHATE [Suspect]
     Active Substance: DEXAMETHASONE SODIUM PHOSPHATE
     Dosage: UNK
     Route: 065
  315. DEXAMETHASONE SODIUM PHOSPHATE [Suspect]
     Active Substance: DEXAMETHASONE SODIUM PHOSPHATE
     Dosage: UNK
  316. DEXAMETHASONE SODIUM PHOSPHATE [Suspect]
     Active Substance: DEXAMETHASONE SODIUM PHOSPHATE
     Dosage: UNK
     Route: 050
  317. DEXAMETHASONE SODIUM PHOSPHATE [Suspect]
     Active Substance: DEXAMETHASONE SODIUM PHOSPHATE
     Dosage: UNK, SOLUTION FOR INJECTION
  318. DEXAMETHASONE SODIUM PHOSPHATE [Suspect]
     Active Substance: DEXAMETHASONE SODIUM PHOSPHATE
     Dosage: UNK
     Route: 050
  319. DEXAMETHASONE SODIUM PHOSPHATE [Suspect]
     Active Substance: DEXAMETHASONE SODIUM PHOSPHATE
     Dosage: UNK
     Route: 050
  320. DEXAMETHASONE SODIUM PHOSPHATE [Suspect]
     Active Substance: DEXAMETHASONE SODIUM PHOSPHATE
     Dosage: UNK
  321. DEXAMETHASONE SODIUM PHOSPHATE [Suspect]
     Active Substance: DEXAMETHASONE SODIUM PHOSPHATE
     Dosage: UNK, SOLUTION FOR INJECTION
     Route: 050
  322. DEXAMETHASONE SODIUM PHOSPHATE [Suspect]
     Active Substance: DEXAMETHASONE SODIUM PHOSPHATE
     Dosage: UNK
     Route: 050
  323. DEXAMETHASONE SODIUM PHOSPHATE [Suspect]
     Active Substance: DEXAMETHASONE SODIUM PHOSPHATE
     Dosage: UNK
  324. DEXAMETHASONE SODIUM PHOSPHATE [Suspect]
     Active Substance: DEXAMETHASONE SODIUM PHOSPHATE
     Dosage: UNK
  325. DEXAMETHASONE SODIUM PHOSPHATE [Suspect]
     Active Substance: DEXAMETHASONE SODIUM PHOSPHATE
     Dosage: UNK
     Route: 050
  326. DEXAMETHASONE SODIUM PHOSPHATE [Suspect]
     Active Substance: DEXAMETHASONE SODIUM PHOSPHATE
     Dosage: UNK
     Route: 050
  327. DEXAMETHASONE SODIUM PHOSPHATE [Suspect]
     Active Substance: DEXAMETHASONE SODIUM PHOSPHATE
     Dosage: UNK, SOLUTION FOR INJECTION
     Route: 050
  328. HYDROCORTISONE SODIUM SUCCINATE [Suspect]
     Active Substance: HYDROCORTISONE SODIUM SUCCINATE
     Indication: Rheumatoid arthritis
     Dosage: 25 MG, INTRAMUSCULAR USE
     Route: 050
  329. TOFACITINIB CITRATE [Suspect]
     Active Substance: TOFACITINIB CITRATE
     Indication: Psoriatic arthropathy
     Dosage: 5 MG, QW
     Route: 050
  330. TOFACITINIB CITRATE [Suspect]
     Active Substance: TOFACITINIB CITRATE
     Indication: Rheumatoid arthritis
     Dosage: 5 MG
     Route: 065
  331. TOFACITINIB CITRATE [Suspect]
     Active Substance: TOFACITINIB CITRATE
     Dosage: 5 MG
     Route: 050
  332. TOFACITINIB CITRATE [Suspect]
     Active Substance: TOFACITINIB CITRATE
     Dosage: 5 MG, QD
     Route: 065
  333. TOFACITINIB CITRATE [Suspect]
     Active Substance: TOFACITINIB CITRATE
     Dosage: UNK
  334. TOFACITINIB CITRATE [Suspect]
     Active Substance: TOFACITINIB CITRATE
     Dosage: 5 MG (1 EVERY 5 DAYS)
     Route: 065
  335. TOFACITINIB CITRATE [Suspect]
     Active Substance: TOFACITINIB CITRATE
     Dosage: 5 MG, QD
     Route: 065
  336. HYDROCORTISONE ACETATE [Suspect]
     Active Substance: HYDROCORTISONE ACETATE
     Indication: Rheumatoid arthritis
     Dosage: UNK
     Route: 050
  337. HYDROCORTISONE ACETATE [Suspect]
     Active Substance: HYDROCORTISONE ACETATE
     Dosage: UNK
     Route: 050
  338. HYDROCORTISONE ACETATE [Suspect]
     Active Substance: HYDROCORTISONE ACETATE
     Dosage: UNK
     Route: 050
  339. HYDROCORTISONE ACETATE [Suspect]
     Active Substance: HYDROCORTISONE ACETATE
     Dosage: UNK
     Route: 058
  340. HYDROCORTISONE ACETATE [Suspect]
     Active Substance: HYDROCORTISONE ACETATE
     Dosage: UNK
     Route: 058
  341. CORTISONE ACETATE [Suspect]
     Active Substance: CORTISONE ACETATE
     Indication: Rheumatoid arthritis
     Dosage: UNK (TOPICAL)
     Route: 050
  342. CORTISONE ACETATE [Suspect]
     Active Substance: CORTISONE ACETATE
     Dosage: UNK, DOSE FORM: OINTMENT
     Route: 050
  343. CORTISONE ACETATE [Suspect]
     Active Substance: CORTISONE ACETATE
     Dosage: UNK
     Route: 065
  344. CORTISONE ACETATE [Suspect]
     Active Substance: CORTISONE ACETATE
     Dosage: UNK, DOSE FORM: OINTMENT
  345. CORTISONE ACETATE [Suspect]
     Active Substance: CORTISONE ACETATE
     Dosage: UNK
     Route: 065
  346. CORTISONE ACETATE [Suspect]
     Active Substance: CORTISONE ACETATE
     Dosage: UNK, DOSE FORM: OINTMENT
     Route: 050
  347. CORTISONE ACETATE [Suspect]
     Active Substance: CORTISONE ACETATE
     Dosage: UNK (TOPICAL)
     Route: 050
  348. CORTISONE ACETATE [Suspect]
     Active Substance: CORTISONE ACETATE
     Dosage: UNK, OINTMENT
     Route: 050
  349. CORTISONE ACETATE [Suspect]
     Active Substance: CORTISONE ACETATE
     Dosage: UNK (TOPICAL)
     Route: 050
  350. CORTISONE ACETATE [Suspect]
     Active Substance: CORTISONE ACETATE
     Dosage: UNK, DOSE FORM: OINTMENT
     Route: 050
  351. CORTISONE ACETATE [Suspect]
     Active Substance: CORTISONE ACETATE
     Dosage: UNK (TOPICAL)
     Route: 050
  352. CORTISONE ACETATE [Suspect]
     Active Substance: CORTISONE ACETATE
     Dosage: UNK, DOSE FORM: OINTMENT
     Route: 050
  353. CORTISONE ACETATE [Suspect]
     Active Substance: CORTISONE ACETATE
     Dosage: UNK
     Route: 050
  354. CORTISONE ACETATE [Suspect]
     Active Substance: CORTISONE ACETATE
     Dosage: UNK, TOPICAL, DOSE FORM: OINTMENT
  355. CORTISONE ACETATE [Suspect]
     Active Substance: CORTISONE ACETATE
     Dosage: UNK
     Route: 065
  356. CORTISONE ACETATE [Suspect]
     Active Substance: CORTISONE ACETATE
     Dosage: UNK (CAPSULES)
     Route: 048
  357. CORTISONE ACETATE [Suspect]
     Active Substance: CORTISONE ACETATE
     Dosage: UNK
     Route: 065
  358. CORTISONE ACETATE [Suspect]
     Active Substance: CORTISONE ACETATE
     Dosage: UNK, TOPICAL, DOSE FORM: OINTMENT
  359. CORTISONE ACETATE [Suspect]
     Active Substance: CORTISONE ACETATE
     Dosage: UNK
     Route: 050
  360. CORTISONE ACETATE [Suspect]
     Active Substance: CORTISONE ACETATE
     Dosage: UNK, DOSE FORM: OINTMENT
     Route: 050
  361. CORTISONE ACETATE [Suspect]
     Active Substance: CORTISONE ACETATE
     Dosage: UNK
     Route: 050
  362. CORTISONE ACETATE [Suspect]
     Active Substance: CORTISONE ACETATE
     Dosage: UNK, DOSE FORM: OINTMENT
  363. CORTISONE ACETATE [Suspect]
     Active Substance: CORTISONE ACETATE
     Dosage: UNK
     Route: 065
  364. CORTISONE ACETATE [Suspect]
     Active Substance: CORTISONE ACETATE
     Dosage: UNK, DOSE FORM: OINTMENT
  365. CORTISONE ACETATE [Suspect]
     Active Substance: CORTISONE ACETATE
     Dosage: UNK
     Route: 050
  366. CORTISONE ACETATE [Suspect]
     Active Substance: CORTISONE ACETATE
     Dosage: UNK, DOSE FORM: OINTMENT
  367. CORTISONE ACETATE [Suspect]
     Active Substance: CORTISONE ACETATE
     Dosage: UNK (TOPICAL)
     Route: 050
  368. CORTISONE ACETATE [Suspect]
     Active Substance: CORTISONE ACETATE
     Dosage: UNK (TOPICAL)
  369. CORTISONE ACETATE [Suspect]
     Active Substance: CORTISONE ACETATE
     Dosage: UNK
     Route: 050
  370. CORTISONE ACETATE [Suspect]
     Active Substance: CORTISONE ACETATE
     Dosage: UNK
  371. CORTISONE ACETATE [Suspect]
     Active Substance: CORTISONE ACETATE
     Dosage: UNK
     Route: 050
  372. CORTISONE ACETATE [Suspect]
     Active Substance: CORTISONE ACETATE
     Dosage: UNK (OINTMENT)
     Route: 048
  373. CORTISONE ACETATE [Suspect]
     Active Substance: CORTISONE ACETATE
     Dosage: 25 MG (CAPSULES), DOSE FORM: OINTMENT
     Route: 050
  374. CORTISONE ACETATE [Suspect]
     Active Substance: CORTISONE ACETATE
     Dosage: UNK
     Route: 050
  375. CORTISONE ACETATE [Suspect]
     Active Substance: CORTISONE ACETATE
     Dosage: UNK, DOSE FORM: OINTMENT
  376. CORTISONE ACETATE [Suspect]
     Active Substance: CORTISONE ACETATE
     Dosage: UNK (TOPICAL)
     Route: 050
  377. CORTISONE ACETATE [Suspect]
     Active Substance: CORTISONE ACETATE
     Dosage: UNK, DOSE FORM: OINTMENT
     Route: 050
  378. CORTISONE ACETATE [Suspect]
     Active Substance: CORTISONE ACETATE
     Dosage: UNK, DOSE FORM: OINTMENT
     Route: 050
  379. CORTISONE ACETATE [Suspect]
     Active Substance: CORTISONE ACETATE
     Dosage: UNK
  380. CORTISONE ACETATE [Suspect]
     Active Substance: CORTISONE ACETATE
     Dosage: UNK
  381. CORTISONE ACETATE [Suspect]
     Active Substance: CORTISONE ACETATE
     Dosage: UNK, ROA: CUTANEOUS USE
  382. CORTISONE ACETATE [Suspect]
     Active Substance: CORTISONE ACETATE
     Dosage: UNK
  383. CORTISONE ACETATE [Suspect]
     Active Substance: CORTISONE ACETATE
     Dosage: UNK (OINTMENT)
     Route: 048
  384. CORTISONE ACETATE [Suspect]
     Active Substance: CORTISONE ACETATE
     Dosage: 25 MG
     Route: 050
  385. CORTISONE ACETATE [Suspect]
     Active Substance: CORTISONE ACETATE
     Dosage: UNK
     Route: 050
  386. CORTISONE ACETATE [Suspect]
     Active Substance: CORTISONE ACETATE
     Dosage: UNK
     Route: 050
  387. CORTISONE ACETATE [Suspect]
     Active Substance: CORTISONE ACETATE
     Dosage: UNK, TOPICAL
  388. CORTISONE ACETATE [Suspect]
     Active Substance: CORTISONE ACETATE
     Dosage: UNK (CAPSULES)
     Route: 048
  389. CORTISONE ACETATE [Suspect]
     Active Substance: CORTISONE ACETATE
     Dosage: 25 MG (TOPICAL), DOSE FORM: OINTMENT
     Route: 050
  390. CORTISONE ACETATE [Suspect]
     Active Substance: CORTISONE ACETATE
     Dosage: 25 MG, DOSE FORM: OINTMENT
     Route: 050
  391. CORTISONE ACETATE [Suspect]
     Active Substance: CORTISONE ACETATE
     Dosage: 25 MG (TOPICAL)
     Route: 065
  392. CORTISONE ACETATE [Suspect]
     Active Substance: CORTISONE ACETATE
     Dosage: UNK
     Route: 050
  393. CORTISONE ACETATE [Suspect]
     Active Substance: CORTISONE ACETATE
     Dosage: UNK
  394. CORTISONE ACETATE [Suspect]
     Active Substance: CORTISONE ACETATE
     Dosage: UNK, TOPICAL
  395. CORTISONE ACETATE [Suspect]
     Active Substance: CORTISONE ACETATE
     Dosage: UNK (TOPICAL)
  396. CORTISONE ACETATE [Suspect]
     Active Substance: CORTISONE ACETATE
     Dosage: UNK, TOPICAL
  397. CORTISONE ACETATE [Suspect]
     Active Substance: CORTISONE ACETATE
     Dosage: UNK (TOPICAL)
  398. CORTISONE ACETATE [Suspect]
     Active Substance: CORTISONE ACETATE
     Dosage: UNK, TOPICAL
  399. CORTISONE ACETATE [Suspect]
     Active Substance: CORTISONE ACETATE
     Dosage: UNK
     Route: 050
  400. CORTISONE ACETATE [Suspect]
     Active Substance: CORTISONE ACETATE
     Dosage: UNK
  401. CORTISONE ACETATE [Suspect]
     Active Substance: CORTISONE ACETATE
     Dosage: UNK (TOPICAL)
  402. CORTISONE ACETATE [Suspect]
     Active Substance: CORTISONE ACETATE
     Dosage: 25 MG, QD (TOPICAL)
     Route: 050
  403. CORTISONE ACETATE [Suspect]
     Active Substance: CORTISONE ACETATE
     Dosage: UNK
     Route: 050
  404. CORTISONE ACETATE [Suspect]
     Active Substance: CORTISONE ACETATE
     Dosage: UNK
  405. CORTISONE ACETATE [Suspect]
     Active Substance: CORTISONE ACETATE
     Dosage: UNK (TOPICAL)
  406. CORTISONE ACETATE [Suspect]
     Active Substance: CORTISONE ACETATE
     Dosage: UNK
  407. CORTISONE ACETATE [Suspect]
     Active Substance: CORTISONE ACETATE
     Dosage: 25 MG (TOPICAL)
     Route: 065
  408. CORTISONE ACETATE [Suspect]
     Active Substance: CORTISONE ACETATE
     Dosage: 25 MG
     Route: 065
  409. CORTISONE ACETATE [Suspect]
     Active Substance: CORTISONE ACETATE
     Dosage: UNK
  410. CORTISONE ACETATE [Suspect]
     Active Substance: CORTISONE ACETATE
     Dosage: UNK
     Route: 050
  411. CORTISONE ACETATE [Suspect]
     Active Substance: CORTISONE ACETATE
     Dosage: 25 MG (TOPICAL)
     Route: 050
  412. CORTISONE ACETATE [Suspect]
     Active Substance: CORTISONE ACETATE
     Dosage: 25 MG (CAPSULES)
     Route: 050
  413. CORTISONE ACETATE [Suspect]
     Active Substance: CORTISONE ACETATE
     Dosage: UNK (TOPICAL)
  414. CORTISONE ACETATE [Suspect]
     Active Substance: CORTISONE ACETATE
     Dosage: UNK
  415. CORTISONE ACETATE [Suspect]
     Active Substance: CORTISONE ACETATE
     Dosage: 25 MG (TOPICAL)
     Route: 065
  416. CORTISONE ACETATE [Suspect]
     Active Substance: CORTISONE ACETATE
     Dosage: UNK
     Route: 050
  417. CORTISONE ACETATE [Suspect]
     Active Substance: CORTISONE ACETATE
     Dosage: UNK
  418. CORTISONE ACETATE [Suspect]
     Active Substance: CORTISONE ACETATE
     Dosage: 25 MG (TOPICAL)
     Route: 050
  419. CORTISONE ACETATE [Suspect]
     Active Substance: CORTISONE ACETATE
     Dosage: UNK
  420. CORTISONE ACETATE [Suspect]
     Active Substance: CORTISONE ACETATE
     Dosage: UNK (TOPICAL)
  421. CORTISONE ACETATE [Suspect]
     Active Substance: CORTISONE ACETATE
     Dosage: 25 MG
     Route: 050
  422. CORTISONE ACETATE [Suspect]
     Active Substance: CORTISONE ACETATE
     Dosage: 25 MG (TOPICAL)
     Route: 050
  423. CORTISONE ACETATE [Suspect]
     Active Substance: CORTISONE ACETATE
     Dosage: 25 MG (TOPICAL)
     Route: 065
  424. CORTISONE ACETATE [Suspect]
     Active Substance: CORTISONE ACETATE
     Dosage: UNK (TOPICAL)
  425. CORTISONE ACETATE [Suspect]
     Active Substance: CORTISONE ACETATE
     Dosage: UNK, SUBCUTNEOUS USE
  426. CORTISONE ACETATE [Suspect]
     Active Substance: CORTISONE ACETATE
     Dosage: 25 MG (TOPICAL)
     Route: 065
  427. CORTISONE ACETATE [Suspect]
     Active Substance: CORTISONE ACETATE
     Dosage: UNK, SUBCUTNEOUS USE
  428. CORTISONE ACETATE [Suspect]
     Active Substance: CORTISONE ACETATE
     Dosage: UNK (TOPICAL)
  429. CORTISONE ACETATE [Suspect]
     Active Substance: CORTISONE ACETATE
     Dosage: UNK (TOPICAL)
  430. CORTISONE ACETATE [Suspect]
     Active Substance: CORTISONE ACETATE
     Dosage: UNK (TOPICAL)
  431. CORTISONE ACETATE [Suspect]
     Active Substance: CORTISONE ACETATE
     Dosage: UNK (TOPICAL)
  432. CORTISONE ACETATE [Suspect]
     Active Substance: CORTISONE ACETATE
     Dosage: UNK, CUTANEOUS USE
  433. CORTISONE ACETATE [Suspect]
     Active Substance: CORTISONE ACETATE
     Dosage: 20 MG (TOPICAL)
     Route: 050
  434. TOCILIZUMAB [Suspect]
     Active Substance: TOCILIZUMAB
     Indication: Rheumatoid arthritis
     Dosage: UNK
     Route: 050
  435. TOCILIZUMAB [Suspect]
     Active Substance: TOCILIZUMAB
     Indication: Product used for unknown indication
     Dosage: UNK
     Route: 050
  436. TOCILIZUMAB [Suspect]
     Active Substance: TOCILIZUMAB
     Dosage: UNK
     Route: 050
  437. TOCILIZUMAB [Suspect]
     Active Substance: TOCILIZUMAB
     Dosage: ROA: ENDOCERVICAL USE
  438. TOCILIZUMAB [Suspect]
     Active Substance: TOCILIZUMAB
     Dosage: UNK
     Route: 050
  439. TOCILIZUMAB [Suspect]
     Active Substance: TOCILIZUMAB
     Dosage: UNK
     Route: 050
  440. TOCILIZUMAB [Suspect]
     Active Substance: TOCILIZUMAB
     Dosage: UNK
     Route: 050
  441. TOCILIZUMAB [Suspect]
     Active Substance: TOCILIZUMAB
     Dosage: UNK, INTRAVENOUS USE
  442. TOCILIZUMAB [Suspect]
     Active Substance: TOCILIZUMAB
     Dosage: UNK
     Route: 065
  443. TOCILIZUMAB [Suspect]
     Active Substance: TOCILIZUMAB
     Dosage: UNK
     Route: 050
  444. TOCILIZUMAB [Suspect]
     Active Substance: TOCILIZUMAB
     Dosage: UNK
     Route: 050
  445. TOCILIZUMAB [Suspect]
     Active Substance: TOCILIZUMAB
     Dosage: 5 MG, QD
  446. TOCILIZUMAB [Suspect]
     Active Substance: TOCILIZUMAB
     Dosage: UNK
  447. TOCILIZUMAB [Suspect]
     Active Substance: TOCILIZUMAB
     Dosage: UNK
     Route: 050
  448. TOCILIZUMAB [Suspect]
     Active Substance: TOCILIZUMAB
     Dosage: UNK
     Route: 050
  449. TOCILIZUMAB [Suspect]
     Active Substance: TOCILIZUMAB
     Dosage: UNK
  450. TOCILIZUMAB [Suspect]
     Active Substance: TOCILIZUMAB
     Dosage: UNK
  451. TOCILIZUMAB [Suspect]
     Active Substance: TOCILIZUMAB
     Dosage: UNK
     Route: 050
  452. TOCILIZUMAB [Suspect]
     Active Substance: TOCILIZUMAB
     Dosage: UNK, ENDOCERVICAL USE
  453. TOCILIZUMAB [Suspect]
     Active Substance: TOCILIZUMAB
     Dosage: UNK
     Route: 058
  454. TOCILIZUMAB [Suspect]
     Active Substance: TOCILIZUMAB
     Dosage: UNK
     Route: 050
  455. TOCILIZUMAB [Suspect]
     Active Substance: TOCILIZUMAB
     Dosage: UNK
     Route: 058
  456. TOCILIZUMAB [Suspect]
     Active Substance: TOCILIZUMAB
     Dosage: UNK
  457. TOCILIZUMAB [Suspect]
     Active Substance: TOCILIZUMAB
     Dosage: UNK
     Route: 058
  458. TOCILIZUMAB [Suspect]
     Active Substance: TOCILIZUMAB
  459. TOCILIZUMAB [Suspect]
     Active Substance: TOCILIZUMAB
     Dosage: 8 MG
     Route: 065
  460. TOCILIZUMAB [Suspect]
     Active Substance: TOCILIZUMAB
     Dosage: 180 MG
     Route: 065
  461. VITAMIN D3 [Suspect]
     Active Substance: CHOLECALCIFEROL
     Indication: Rheumatoid arthritis
     Dosage: UNK
     Route: 065
  462. VITAMIN D3 [Suspect]
     Active Substance: CHOLECALCIFEROL
     Indication: Product used for unknown indication
     Dosage: UNK
  463. VITAMIN D3 [Suspect]
     Active Substance: CHOLECALCIFEROL
     Dosage: UNK
  464. VITAMIN D3 [Suspect]
     Active Substance: CHOLECALCIFEROL
     Dosage: UNK
  465. VITAMIN D3 [Suspect]
     Active Substance: CHOLECALCIFEROL
     Dosage: UNK
  466. VITAMIN D3 [Suspect]
     Active Substance: CHOLECALCIFEROL
     Dosage: UNK
  467. TUMS ULTRA [Suspect]
     Active Substance: CALCIUM CARBONATE
     Indication: Product used for unknown indication
     Dosage: UNK
     Route: 065
  468. TUMS ULTRA [Suspect]
     Active Substance: CALCIUM CARBONATE
     Dosage: UNK
  469. TUMS ULTRA [Suspect]
     Active Substance: CALCIUM CARBONATE
     Dosage: UNK
  470. TUMS ULTRA [Suspect]
     Active Substance: CALCIUM CARBONATE
     Dosage: UNK
  471. TUMS ULTRA [Suspect]
     Active Substance: CALCIUM CARBONATE
     Dosage: UNK
  472. CETIRIZINE HYDROCHLORIDE\PSEUDOEPHEDRINE HYDROCHLORIDE [Suspect]
     Active Substance: CETIRIZINE HYDROCHLORIDE\PSEUDOEPHEDRINE HYDROCHLORIDE
     Indication: Off label use
     Dosage: 10 MG
  473. CETIRIZINE HYDROCHLORIDE\PSEUDOEPHEDRINE HYDROCHLORIDE [Suspect]
     Active Substance: CETIRIZINE HYDROCHLORIDE\PSEUDOEPHEDRINE HYDROCHLORIDE
     Indication: Rheumatoid arthritis
     Dosage: UNK, TABLET (EXTENDED- RELEASE
  474. CETIRIZINE HYDROCHLORIDE\PSEUDOEPHEDRINE HYDROCHLORIDE [Suspect]
     Active Substance: CETIRIZINE HYDROCHLORIDE\PSEUDOEPHEDRINE HYDROCHLORIDE
     Dosage: UNK
  475. CETIRIZINE HYDROCHLORIDE\PSEUDOEPHEDRINE HYDROCHLORIDE [Suspect]
     Active Substance: CETIRIZINE HYDROCHLORIDE\PSEUDOEPHEDRINE HYDROCHLORIDE
     Dosage: UNK
  476. CETIRIZINE HYDROCHLORIDE\PSEUDOEPHEDRINE HYDROCHLORIDE [Suspect]
     Active Substance: CETIRIZINE HYDROCHLORIDE\PSEUDOEPHEDRINE HYDROCHLORIDE
     Dosage: UNK
  477. CETIRIZINE HYDROCHLORIDE\PSEUDOEPHEDRINE HYDROCHLORIDE [Suspect]
     Active Substance: CETIRIZINE HYDROCHLORIDE\PSEUDOEPHEDRINE HYDROCHLORIDE
     Dosage: UNK
  478. CETIRIZINE HYDROCHLORIDE\PSEUDOEPHEDRINE HYDROCHLORIDE [Suspect]
     Active Substance: CETIRIZINE HYDROCHLORIDE\PSEUDOEPHEDRINE HYDROCHLORIDE
     Dosage: UNK
  479. CETIRIZINE HYDROCHLORIDE\PSEUDOEPHEDRINE HYDROCHLORIDE [Suspect]
     Active Substance: CETIRIZINE HYDROCHLORIDE\PSEUDOEPHEDRINE HYDROCHLORIDE
     Dosage: 10 MG, QD (/ TABLET (EXTENDED- RELEASE) ROUTE: ORAL
     Route: 050
  480. CETIRIZINE HYDROCHLORIDE\PSEUDOEPHEDRINE HYDROCHLORIDE [Suspect]
     Active Substance: CETIRIZINE HYDROCHLORIDE\PSEUDOEPHEDRINE HYDROCHLORIDE
     Dosage: 25 MG
  481. GOLIMUMAB [Suspect]
     Active Substance: GOLIMUMAB
     Indication: Rheumatoid arthritis
     Dosage: UNK
  482. GOLIMUMAB [Suspect]
     Active Substance: GOLIMUMAB
     Indication: Product used for unknown indication
     Dosage: UNK
  483. GOLIMUMAB [Suspect]
     Active Substance: GOLIMUMAB
     Dosage: UNK
  484. GOLIMUMAB [Suspect]
     Active Substance: GOLIMUMAB
     Dosage: UNK, SUBCUTANEOUS USE
  485. GOLIMUMAB [Suspect]
     Active Substance: GOLIMUMAB
     Dosage: UNK
     Route: 050
  486. GOLIMUMAB [Suspect]
     Active Substance: GOLIMUMAB
     Dosage: UNK
     Route: 050
  487. GOLIMUMAB [Suspect]
     Active Substance: GOLIMUMAB
     Dosage: UNK
  488. GOLIMUMAB [Suspect]
     Active Substance: GOLIMUMAB
     Dosage: UNK
  489. GOLIMUMAB [Suspect]
     Active Substance: GOLIMUMAB
     Dosage: UNK, ROUTE: UNKNOWN
  490. GOLIMUMAB [Suspect]
     Active Substance: GOLIMUMAB
     Dosage: UNK, ROUTE: SUBCUTANEOUS
  491. GOLIMUMAB [Suspect]
     Active Substance: GOLIMUMAB
     Dosage: UNK
  492. GOLIMUMAB [Suspect]
     Active Substance: GOLIMUMAB
     Dosage: UNK ROUTE: SUBCUTANEOUS
  493. GOLIMUMAB [Suspect]
     Active Substance: GOLIMUMAB
     Dosage: UNK
  494. GOLIMUMAB [Suspect]
     Active Substance: GOLIMUMAB
     Dosage: UNK, ROUTE: UNKNOWN
  495. STELARA [Suspect]
     Active Substance: USTEKINUMAB
     Indication: Rheumatoid arthritis
     Dosage: 45 MG, INTRAVENOUS USE
     Route: 050
  496. STELARA [Suspect]
     Active Substance: USTEKINUMAB
     Indication: Product used for unknown indication
     Dosage: UNK
     Route: 050
  497. STELARA [Suspect]
     Active Substance: USTEKINUMAB
     Indication: Psoriatic arthropathy
     Dosage: UNK
     Route: 050
  498. STELARA [Suspect]
     Active Substance: USTEKINUMAB
     Dosage: UNK
     Route: 050
  499. STELARA [Suspect]
     Active Substance: USTEKINUMAB
     Dosage: UNK
  500. STELARA [Suspect]
     Active Substance: USTEKINUMAB
     Dosage: UNK, SOLUTION SUBCUTANEOUS
     Route: 050
  501. STELARA [Suspect]
     Active Substance: USTEKINUMAB
     Dosage: UNK
  502. STELARA [Suspect]
     Active Substance: USTEKINUMAB
     Dosage: UNK
  503. STELARA [Suspect]
     Active Substance: USTEKINUMAB
     Dosage: UNK, SUBCUTANEOUS USE
  504. STELARA [Suspect]
     Active Substance: USTEKINUMAB
     Dosage: UNK
  505. STELARA [Suspect]
     Active Substance: USTEKINUMAB
     Dosage: 45 MG ROUTE: SUBCUTANEOUS
     Route: 050
  506. STELARA [Suspect]
     Active Substance: USTEKINUMAB
     Dosage: 45 MG, SUBCUTANEOUS USE
     Route: 050
  507. STELARA [Suspect]
     Active Substance: USTEKINUMAB
     Dosage: UNK, SUBCUTANEOUS USE
  508. STELARA [Suspect]
     Active Substance: USTEKINUMAB
     Dosage: UNK
  509. STELARA [Suspect]
     Active Substance: USTEKINUMAB
     Dosage: UNK
  510. STELARA [Suspect]
     Active Substance: USTEKINUMAB
     Dosage: UNK
     Route: 065
  511. STELARA [Suspect]
     Active Substance: USTEKINUMAB
     Dosage: UNK, UNKNOWN ROUTE
  512. KEVZARA [Suspect]
     Active Substance: SARILUMAB
     Indication: Rheumatoid arthritis
     Dosage: UNK
  513. KEVZARA [Suspect]
     Active Substance: SARILUMAB
     Dosage: UNK
  514. KEVZARA [Suspect]
     Active Substance: SARILUMAB
     Dosage: UNK
  515. KEVZARA [Suspect]
     Active Substance: SARILUMAB
     Dosage: UNK, ROA: UNKNOWN
  516. KEVZARA [Suspect]
     Active Substance: SARILUMAB
     Dosage: UNK
  517. KEVZARA [Suspect]
     Active Substance: SARILUMAB
     Dosage: UNK
  518. KEVZARA [Suspect]
     Active Substance: SARILUMAB
     Dosage: UNK, UNKNOWN ROUTE
  519. KEVZARA [Suspect]
     Active Substance: SARILUMAB
     Dosage: UNK
  520. PERIOGARD [Suspect]
     Active Substance: CHLORHEXIDINE GLUCONATE
     Indication: Product used for unknown indication
     Dosage: UNK
     Route: 050
  521. PERIOGARD [Suspect]
     Active Substance: CHLORHEXIDINE GLUCONATE
     Indication: Rheumatoid arthritis
     Dosage: UNK
  522. PERIOGARD [Suspect]
     Active Substance: CHLORHEXIDINE GLUCONATE
     Dosage: UNK, ROA: BUCCAL USE
  523. PERIOGARD [Suspect]
     Active Substance: CHLORHEXIDINE GLUCONATE
     Dosage: UNK,  ROA: BUCCAL USE
  524. PERIOGARD [Suspect]
     Active Substance: CHLORHEXIDINE GLUCONATE
     Dosage: UNK, BUCCAL USE
  525. PERIOGARD [Suspect]
     Active Substance: CHLORHEXIDINE GLUCONATE
     Dosage: UNK, BUCCAL USE
  526. PERIOGARD [Suspect]
     Active Substance: CHLORHEXIDINE GLUCONATE
     Dosage: UNK
  527. PERIOGARD [Suspect]
     Active Substance: CHLORHEXIDINE GLUCONATE
     Dosage: UNK, BUCCAL USE
  528. CALCIUM CHLORIDE [Suspect]
     Active Substance: CALCIUM CHLORIDE
     Indication: Product used for unknown indication
     Dosage: UNK
     Route: 065
  529. CALCIUM CHLORIDE [Suspect]
     Active Substance: CALCIUM CHLORIDE
     Dosage: UNK
  530. CALCIUM CHLORIDE [Suspect]
     Active Substance: CALCIUM CHLORIDE
     Dosage: UNK
  531. CALCIUM CHLORIDE [Suspect]
     Active Substance: CALCIUM CHLORIDE
     Dosage: UNK
  532. CALCIUM CHLORIDE [Suspect]
     Active Substance: CALCIUM CHLORIDE
     Dosage: UNK
  533. CALCIUM CHLORIDE [Suspect]
     Active Substance: CALCIUM CHLORIDE
     Dosage: UNK
  534. CERTOLIZUMAB PEGOL [Suspect]
     Active Substance: CERTOLIZUMAB PEGOL
     Indication: Arthritis
     Dosage: UNK
     Route: 050
  535. CERTOLIZUMAB PEGOL [Suspect]
     Active Substance: CERTOLIZUMAB PEGOL
     Indication: Rheumatoid arthritis
     Dosage: UNK
  536. CERTOLIZUMAB PEGOL [Suspect]
     Active Substance: CERTOLIZUMAB PEGOL
     Dosage: 400 MG ROUTE: SUBCUTANEOUS
     Route: 050
  537. CERTOLIZUMAB PEGOL [Suspect]
     Active Substance: CERTOLIZUMAB PEGOL
     Dosage: UNK
     Route: 050
  538. CERTOLIZUMAB PEGOL [Suspect]
     Active Substance: CERTOLIZUMAB PEGOL
     Dosage: UNK
  539. CERTOLIZUMAB PEGOL [Suspect]
     Active Substance: CERTOLIZUMAB PEGOL
     Dosage: UNK
  540. CERTOLIZUMAB PEGOL [Suspect]
     Active Substance: CERTOLIZUMAB PEGOL
     Dosage: UNK
     Route: 050
  541. CERTOLIZUMAB PEGOL [Suspect]
     Active Substance: CERTOLIZUMAB PEGOL
     Dosage: UNK
  542. HYDROCORTISONE PROBUTATE [Suspect]
     Active Substance: HYDROCORTISONE PROBUTATE
     Indication: Rheumatoid arthritis
     Dosage: UNK
     Route: 065
  543. HYDROCORTISONE PROBUTATE [Suspect]
     Active Substance: HYDROCORTISONE PROBUTATE
     Dosage: UNK
  544. HYDROCORTISONE PROBUTATE [Suspect]
     Active Substance: HYDROCORTISONE PROBUTATE
     Dosage: UNK
  545. HYDROCORTISONE PROBUTATE [Suspect]
     Active Substance: HYDROCORTISONE PROBUTATE
     Dosage: UNK
  546. PSEUDOEPHEDRINE HYDROCHLORIDE [Suspect]
     Active Substance: PSEUDOEPHEDRINE HYDROCHLORIDE
     Indication: Rheumatoid arthritis
     Dosage: UNK
  547. PSEUDOEPHEDRINE HYDROCHLORIDE [Suspect]
     Active Substance: PSEUDOEPHEDRINE HYDROCHLORIDE
     Dosage: UNK
  548. PSEUDOEPHEDRINE HYDROCHLORIDE [Suspect]
     Active Substance: PSEUDOEPHEDRINE HYDROCHLORIDE
     Dosage: UNK
  549. PSEUDOEPHEDRINE HYDROCHLORIDE [Suspect]
     Active Substance: PSEUDOEPHEDRINE HYDROCHLORIDE
     Dosage: UNK
  550. PSEUDOEPHEDRINE HYDROCHLORIDE [Suspect]
     Active Substance: PSEUDOEPHEDRINE HYDROCHLORIDE
     Dosage: UNK
  551. PSEUDOEPHEDRINE HYDROCHLORIDE [Suspect]
     Active Substance: PSEUDOEPHEDRINE HYDROCHLORIDE
     Dosage: UNK
  552. PSEUDOEPHEDRINE HYDROCHLORIDE [Suspect]
     Active Substance: PSEUDOEPHEDRINE HYDROCHLORIDE
     Dosage: 25 MG
  553. CALCIUM GLUCONATE [Suspect]
     Active Substance: CALCIUM GLUCONATE
     Indication: Product used for unknown indication
     Dosage: UNK
     Route: 065
  554. CALCIUM GLUCONATE [Suspect]
     Active Substance: CALCIUM GLUCONATE
     Dosage: UNK
  555. CALCIUM GLUCONATE [Suspect]
     Active Substance: CALCIUM GLUCONATE
     Dosage: UNK
     Route: 065
  556. CALCIUM GLUCONATE [Suspect]
     Active Substance: CALCIUM GLUCONATE
     Dosage: UNK
  557. CALCIUM GLUCONATE [Suspect]
     Active Substance: CALCIUM GLUCONATE
     Dosage: UNK
  558. CALCIUM GLUCONATE [Suspect]
     Active Substance: CALCIUM GLUCONATE
     Dosage: UNK
  559. CALCIUM GLUCONATE [Suspect]
     Active Substance: CALCIUM GLUCONATE
     Dosage: UNK
  560. CALCIUM GLUCONATE [Suspect]
     Active Substance: CALCIUM GLUCONATE
     Dosage: UNK
  561. CALCIUM GLUCONATE [Suspect]
     Active Substance: CALCIUM GLUCONATE
     Dosage: UNK
  562. CALCIUM GLUCONATE [Suspect]
     Active Substance: CALCIUM GLUCONATE
     Dosage: UNK
  563. CALCIUM GLUCONATE [Suspect]
     Active Substance: CALCIUM GLUCONATE
     Dosage: UNK
  564. CALCIUM GLUCONATE [Suspect]
     Active Substance: CALCIUM GLUCONATE
     Dosage: UNK
  565. CYCLOBENZAPRINE [Suspect]
     Active Substance: CYCLOBENZAPRINE
     Indication: Product used for unknown indication
     Dosage: 1 DOSAGE FORM, QD
     Route: 048
  566. USTEKINUMAB [Suspect]
     Active Substance: USTEKINUMAB
     Indication: Product used for unknown indication
     Dosage: 45 MG, INTRAVENOUS (NOT OTHERWISE SPECIFIED)
     Route: 050
  567. USTEKINUMAB [Suspect]
     Active Substance: USTEKINUMAB
     Dosage: 45 MG
     Route: 058
  568. DEXAMETHASONE [Suspect]
     Active Substance: DEXAMETHASONE
     Indication: Rheumatoid arthritis
     Dosage: UNK
     Route: 050
  569. DEXAMETHASONE [Suspect]
     Active Substance: DEXAMETHASONE
     Dosage: UNK
     Route: 050
  570. DEXAMETHASONE [Suspect]
     Active Substance: DEXAMETHASONE
     Dosage: UNK
     Route: 065
  571. DEXAMETHASONE [Suspect]
     Active Substance: DEXAMETHASONE
     Dosage: UNK
     Route: 050
  572. DEXAMETHASONE [Suspect]
     Active Substance: DEXAMETHASONE
     Dosage: UNK
  573. DEXAMETHASONE [Suspect]
     Active Substance: DEXAMETHASONE
     Dosage: UNK
  574. DEXAMETHASONE [Suspect]
     Active Substance: DEXAMETHASONE
     Dosage: UNK
  575. DEXAMETHASONE [Suspect]
     Active Substance: DEXAMETHASONE
     Dosage: UNK, ORAL ROUTE
  576. DEXAMETHASONE [Suspect]
     Active Substance: DEXAMETHASONE
     Dosage: UNK, ORAL USE
  577. DEXAMETHASONE [Suspect]
     Active Substance: DEXAMETHASONE
     Dosage: UNK
  578. FINACEA [Suspect]
     Active Substance: AZELAIC ACID
     Indication: Product used for unknown indication
     Dosage: UNK
     Route: 050
  579. FINACEA [Suspect]
     Active Substance: AZELAIC ACID
     Dosage: UNK
     Route: 050
  580. FINACEA [Suspect]
     Active Substance: AZELAIC ACID
     Dosage: UNK
     Route: 050
  581. FINACEA [Suspect]
     Active Substance: AZELAIC ACID
     Dosage: UNK
     Route: 050
  582. FINACEA [Suspect]
     Active Substance: AZELAIC ACID
     Dosage: UNK
     Route: 058
  583. ACTEMRA [Suspect]
     Active Substance: TOCILIZUMAB
     Indication: Rheumatoid arthritis
     Dosage: UNK
     Route: 065
  584. ACTEMRA [Suspect]
     Active Substance: TOCILIZUMAB
     Indication: Product used for unknown indication
     Dosage: UNK
  585. ACTEMRA [Suspect]
     Active Substance: TOCILIZUMAB
     Dosage: 200 MG/KG
     Route: 065
  586. ACTEMRA [Suspect]
     Active Substance: TOCILIZUMAB
     Dosage: UNK
     Route: 050
  587. ACTEMRA [Suspect]
     Active Substance: TOCILIZUMAB
     Dosage: UNK
     Route: 050
  588. ACTEMRA [Suspect]
     Active Substance: TOCILIZUMAB
     Dosage: 280 MG
     Route: 065
  589. ACTEMRA [Suspect]
     Active Substance: TOCILIZUMAB
     Dosage: UNK
     Route: 065
  590. ACTEMRA [Suspect]
     Active Substance: TOCILIZUMAB
     Dosage: UNK, TOPICAL
  591. ACTEMRA [Suspect]
     Active Substance: TOCILIZUMAB
     Dosage: 8 MG/KG
     Route: 065
  592. ACTEMRA [Suspect]
     Active Substance: TOCILIZUMAB
     Dosage: UNK
     Route: 050
  593. ACTEMRA [Suspect]
     Active Substance: TOCILIZUMAB
     Dosage: UNK
  594. ACTEMRA [Suspect]
     Active Substance: TOCILIZUMAB
     Dosage: 280 MG
     Route: 065
  595. ACTEMRA [Suspect]
     Active Substance: TOCILIZUMAB
     Dosage: UNK
     Route: 050
  596. ACTEMRA [Suspect]
     Active Substance: TOCILIZUMAB
     Dosage: UNK
     Route: 050
  597. ACTEMRA [Suspect]
     Active Substance: TOCILIZUMAB
     Dosage: UNK (INTRAVENOUS NOT OTHERWISE SPECIFIED)
     Route: 065
  598. ACTEMRA [Suspect]
     Active Substance: TOCILIZUMAB
     Dosage: UNK (INTRAVENOUS (NOT OTHERWISE SPECIFIED)
     Route: 050
  599. ACTEMRA [Suspect]
     Active Substance: TOCILIZUMAB
     Dosage: UNK (INTRAVENOUS (NOT OTHERWISE SPECIFIED)
     Route: 050
  600. ACTEMRA [Suspect]
     Active Substance: TOCILIZUMAB
     Dosage: UNK
  601. ACTEMRA [Suspect]
     Active Substance: TOCILIZUMAB
     Dosage: UNK
     Route: 050
  602. ACTEMRA [Suspect]
     Active Substance: TOCILIZUMAB
     Dosage: UNK
     Route: 050
  603. ACTEMRA [Suspect]
     Active Substance: TOCILIZUMAB
     Dosage: UNK, NOT SPECIFIED
     Route: 050
  604. ACTEMRA [Suspect]
     Active Substance: TOCILIZUMAB
     Dosage: UNK
  605. ACTEMRA [Suspect]
     Active Substance: TOCILIZUMAB
     Dosage: UNK
     Route: 050
  606. ACTEMRA [Suspect]
     Active Substance: TOCILIZUMAB
     Dosage: ROUTE: INTRAVENOUS (NOT OTHERWISE SPECIFIED)
  607. ACTEMRA [Suspect]
     Active Substance: TOCILIZUMAB
     Dosage: 752.8 MG (INTRAVENOUS (NOT OTHERWISE SPECIFIED)
     Route: 050
  608. ACTEMRA [Suspect]
     Active Substance: TOCILIZUMAB
     Dosage: UNK
     Route: 050
  609. ACTEMRA [Suspect]
     Active Substance: TOCILIZUMAB
     Dosage: UNK
     Route: 050
  610. ACTEMRA [Suspect]
     Active Substance: TOCILIZUMAB
     Dosage: UNK
     Route: 050
  611. ACTEMRA [Suspect]
     Active Substance: TOCILIZUMAB
     Dosage: ROUTE: INTRAVENOUS (NOT OTHERWISE SPECIFIED)
  612. ACTEMRA [Suspect]
     Active Substance: TOCILIZUMAB
     Dosage: 20 MG
     Route: 050
  613. ACTEMRA [Suspect]
     Active Substance: TOCILIZUMAB
     Dosage: UNK
     Route: 050
  614. ACTEMRA [Suspect]
     Active Substance: TOCILIZUMAB
  615. ACTEMRA [Suspect]
     Active Substance: TOCILIZUMAB
     Dosage: 752.8 MG (INTRAVENOUS (NOT OTHERWISE SPECIFIED)
     Route: 050
  616. ACTEMRA [Suspect]
     Active Substance: TOCILIZUMAB
     Dosage: 3011.2 MG (INTRAVENOUS (NOT OTHERWISE SPECIFIED)
     Route: 050
  617. ACTEMRA [Suspect]
     Active Substance: TOCILIZUMAB
     Dosage: 2912 MG (INTRAVENOUS (NOT OTHERWISE SPECIFIED)
     Route: 050
  618. ACTEMRA [Suspect]
     Active Substance: TOCILIZUMAB
     Dosage: UNK (INTRAVENOUS NOT OTHERWISE SPECIFIED)
  619. ACTEMRA [Suspect]
     Active Substance: TOCILIZUMAB
     Dosage: UNK
     Route: 050
  620. ACTEMRA [Suspect]
     Active Substance: TOCILIZUMAB
     Dosage: UNK
  621. ACTEMRA [Suspect]
     Active Substance: TOCILIZUMAB
     Dosage: UNK (TOPICAL)
  622. ACTEMRA [Suspect]
     Active Substance: TOCILIZUMAB
     Dosage: 20 MG
     Route: 050
  623. ACTEMRA [Suspect]
     Active Substance: TOCILIZUMAB
     Dosage: UNK
     Route: 050
  624. ACTEMRA [Suspect]
     Active Substance: TOCILIZUMAB
     Dosage: UNK
     Route: 050
  625. ACTEMRA [Suspect]
     Active Substance: TOCILIZUMAB
     Dosage: UNK (INTRAVENOUS NOT OTHERWISE SPECIFIED)
  626. ACTEMRA [Suspect]
     Active Substance: TOCILIZUMAB
     Dosage: UNK
  627. ACTEMRA [Suspect]
     Active Substance: TOCILIZUMAB
     Dosage: UNK
     Route: 050
  628. ACTEMRA [Suspect]
     Active Substance: TOCILIZUMAB
     Dosage: UNK
     Route: 050
  629. ACTEMRA [Suspect]
     Active Substance: TOCILIZUMAB
     Dosage: UNK (INTRAVENOUS (NOT OTHERWISE SPECIFIED)
  630. ACTEMRA [Suspect]
     Active Substance: TOCILIZUMAB
     Dosage: UNK
     Route: 050
  631. ACTEMRA [Suspect]
     Active Substance: TOCILIZUMAB
     Dosage: UNK
  632. ACTEMRA [Suspect]
     Active Substance: TOCILIZUMAB
     Dosage: UNK
  633. ACTEMRA [Suspect]
     Active Substance: TOCILIZUMAB
     Dosage: UNK
  634. ACTEMRA [Suspect]
     Active Substance: TOCILIZUMAB
     Dosage: UNK (TOPICAL)
  635. ACTEMRA [Suspect]
     Active Substance: TOCILIZUMAB
     Dosage: UNK (TOPICAL)
     Route: 065
  636. ACTEMRA [Suspect]
     Active Substance: TOCILIZUMAB
     Dosage: UNK
     Route: 050
  637. ACTEMRA [Suspect]
     Active Substance: TOCILIZUMAB
     Dosage: UNK (INTRAVENOUS (NOT OTHERWISE SPECIFIED)
     Route: 050
  638. ACTEMRA [Suspect]
     Active Substance: TOCILIZUMAB
     Dosage: UNK (INTRAVENOUS (NOT OTHERWISE SPECIFIED)
     Route: 050
  639. ACTEMRA [Suspect]
     Active Substance: TOCILIZUMAB
     Dosage: UNK
     Route: 065
  640. ACTEMRA [Suspect]
     Active Substance: TOCILIZUMAB
     Dosage: UNK
     Route: 050
  641. ACTEMRA [Suspect]
     Active Substance: TOCILIZUMAB
     Dosage: UNK
     Route: 050
  642. ACTEMRA [Suspect]
     Active Substance: TOCILIZUMAB
     Dosage: UNK
  643. TOPICORT [Suspect]
     Active Substance: DESOXIMETASONE
     Indication: Product used for unknown indication
     Dosage: UNK
     Route: 050
  644. TOPICORT [Suspect]
     Active Substance: DESOXIMETASONE
     Indication: Rheumatoid arthritis
     Dosage: UNK
     Route: 050
  645. TOPICORT [Suspect]
     Active Substance: DESOXIMETASONE
     Dosage: UNK
     Route: 050
  646. TOPICORT [Suspect]
     Active Substance: DESOXIMETASONE
     Dosage: UNK
     Route: 050
  647. TOPICORT [Suspect]
     Active Substance: DESOXIMETASONE
     Dosage: UNK
     Route: 050
  648. TOPICORT [Suspect]
     Active Substance: DESOXIMETASONE
     Dosage: UNK
     Route: 050
  649. TOPICORT [Suspect]
     Active Substance: DESOXIMETASONE
     Dosage: UNK
     Route: 050
  650. TOPICORT [Suspect]
     Active Substance: DESOXIMETASONE
     Dosage: UNK
     Route: 050
  651. TOPICORT [Suspect]
     Active Substance: DESOXIMETASONE
     Dosage: UNK
     Route: 050
  652. TOPICORT [Suspect]
     Active Substance: DESOXIMETASONE
     Dosage: UNK
     Route: 050
  653. TOPICORT [Suspect]
     Active Substance: DESOXIMETASONE
     Dosage: UNK
     Route: 050
  654. TOPICORT [Suspect]
     Active Substance: DESOXIMETASONE
     Dosage: UNK
     Route: 058
  655. TOPICORT [Suspect]
     Active Substance: DESOXIMETASONE
     Dosage: UNK
     Route: 050
  656. TOPICORT [Suspect]
     Active Substance: DESOXIMETASONE
     Dosage: UNK
     Route: 048
  657. TOPICORT [Suspect]
     Active Substance: DESOXIMETASONE
  658. CHLORHEXIDINE [Suspect]
     Active Substance: CHLORHEXIDINE
     Indication: Product used for unknown indication
     Dosage: UNK
     Route: 050
  659. CHLORHEXIDINE [Suspect]
     Active Substance: CHLORHEXIDINE
     Dosage: UNK
  660. CHLORHEXIDINE [Suspect]
     Active Substance: CHLORHEXIDINE
     Dosage: UNK (TOPICAL)
     Route: 065
  661. CHLORHEXIDINE [Suspect]
     Active Substance: CHLORHEXIDINE
     Dosage: UNK
  662. CHLORHEXIDINE [Suspect]
     Active Substance: CHLORHEXIDINE
     Dosage: UNK
     Route: 065
  663. CHLORHEXIDINE [Suspect]
     Active Substance: CHLORHEXIDINE
     Dosage: ROA: BUCCAL USE
  664. CHLORHEXIDINE [Suspect]
     Active Substance: CHLORHEXIDINE
     Dosage: UNK
  665. CHLORHEXIDINE [Suspect]
     Active Substance: CHLORHEXIDINE
     Dosage: UNK, TOPICAL
  666. CHLORHEXIDINE [Suspect]
     Active Substance: CHLORHEXIDINE
     Dosage: UNK (TOPICAL)
  667. CHLORHEXIDINE [Suspect]
     Active Substance: CHLORHEXIDINE
     Dosage: UNK
  668. CHLORHEXIDINE [Suspect]
     Active Substance: CHLORHEXIDINE
     Dosage: UNK, ROA: BUCCAL USE
  669. CHLORHEXIDINE [Suspect]
     Active Substance: CHLORHEXIDINE
     Dosage: UNK (TOPICAL), UNKNOWN
  670. ARAVA [Suspect]
     Active Substance: LEFLUNOMIDE
     Indication: Rheumatoid arthritis
     Dosage: 20 MG, QD
     Route: 050
  671. ARAVA [Suspect]
     Active Substance: LEFLUNOMIDE
     Dosage: 20 MG, QD
     Route: 065
  672. ARAVA [Suspect]
     Active Substance: LEFLUNOMIDE
     Dosage: UNK
     Route: 065
  673. ARAVA [Suspect]
     Active Substance: LEFLUNOMIDE
     Dosage: UNK
  674. ARAVA [Suspect]
     Active Substance: LEFLUNOMIDE
     Dosage: UNK
     Route: 050
  675. ARAVA [Suspect]
     Active Substance: LEFLUNOMIDE
     Dosage: UNK
     Route: 050
  676. ARAVA [Suspect]
     Active Substance: LEFLUNOMIDE
     Dosage: UNK
     Route: 050
  677. ARAVA [Suspect]
     Active Substance: LEFLUNOMIDE
     Dosage: UNK
  678. ARAVA [Suspect]
     Active Substance: LEFLUNOMIDE
     Dosage: UNK
     Route: 050
  679. ARAVA [Suspect]
     Active Substance: LEFLUNOMIDE
     Dosage: UNK
  680. ARAVA [Suspect]
     Active Substance: LEFLUNOMIDE
     Dosage: UNK
  681. ARAVA [Suspect]
     Active Substance: LEFLUNOMIDE
     Dosage: UNK
     Route: 050
  682. ARAVA [Suspect]
     Active Substance: LEFLUNOMIDE
     Dosage: UNK
  683. ARAVA [Suspect]
     Active Substance: LEFLUNOMIDE
     Dosage: UNK
     Route: 050
  684. ARAVA [Suspect]
     Active Substance: LEFLUNOMIDE
     Dosage: UNK
  685. ARAVA [Suspect]
     Active Substance: LEFLUNOMIDE
     Dosage: UNK
  686. ARAVA [Suspect]
     Active Substance: LEFLUNOMIDE
     Dosage: UNK
  687. ARAVA [Suspect]
     Active Substance: LEFLUNOMIDE
     Dosage: UNK
  688. ARAVA [Suspect]
     Active Substance: LEFLUNOMIDE
     Dosage: UNK
     Route: 050
  689. ARAVA [Suspect]
     Active Substance: LEFLUNOMIDE
     Dosage: UNK
     Route: 050
  690. ARAVA [Suspect]
     Active Substance: LEFLUNOMIDE
     Dosage: UNK
     Route: 065
  691. ARAVA [Suspect]
     Active Substance: LEFLUNOMIDE
     Dosage: UNK
  692. ARAVA [Suspect]
     Active Substance: LEFLUNOMIDE
     Dosage: UNK
     Route: 065
  693. ARAVA [Suspect]
     Active Substance: LEFLUNOMIDE
     Dosage: UNK
  694. CELECOXIB [Suspect]
     Active Substance: CELECOXIB
     Indication: Product used for unknown indication
     Dosage: 2 DOSAGE FORM, QD
  695. CELECOXIB [Suspect]
     Active Substance: CELECOXIB
     Dosage: 1 DOSAGE FORM, QD
  696. CELECOXIB [Suspect]
     Active Substance: CELECOXIB
     Dosage: UNK, QD
  697. CELECOXIB [Suspect]
     Active Substance: CELECOXIB
     Dosage: 200 MG
     Route: 050
  698. CELECOXIB [Suspect]
     Active Substance: CELECOXIB
     Dosage: 1 DOSAGE FORM, QD
     Route: 050
  699. ORENCIA [Suspect]
     Active Substance: ABATACEPT
     Indication: Rheumatoid arthritis
     Dosage: 25 MG, SUBCUTANEOUS ROUTE
     Route: 050
  700. ORENCIA [Suspect]
     Active Substance: ABATACEPT
     Dosage: 0.5 MG, Q24H
  701. ORENCIA [Suspect]
     Active Substance: ABATACEPT
     Dosage: 5 MG, QD
  702. ORENCIA [Suspect]
     Active Substance: ABATACEPT
     Dosage: UNK
     Route: 050
  703. ORENCIA [Suspect]
     Active Substance: ABATACEPT
     Dosage: UNK
  704. ORENCIA [Suspect]
     Active Substance: ABATACEPT
     Dosage: UNK
     Route: 050
  705. ORENCIA [Suspect]
     Active Substance: ABATACEPT
     Dosage: UNK
  706. ORENCIA [Suspect]
     Active Substance: ABATACEPT
     Dosage: UNK
     Route: 050
  707. ORENCIA [Suspect]
     Active Substance: ABATACEPT
     Dosage: UNK
  708. ORENCIA [Suspect]
     Active Substance: ABATACEPT
     Dosage: UNK, ROA: VAGINAL USE
  709. ORENCIA [Suspect]
     Active Substance: ABATACEPT
     Dosage: UNK, INTRAVENOUS DRIP
  710. ORENCIA [Suspect]
     Active Substance: ABATACEPT
     Dosage: 25 MG, SUBCUTANEOUS USE
     Route: 050
  711. ORENCIA [Suspect]
     Active Substance: ABATACEPT
     Dosage: 25 MG, SUBCUTANEOUS USE
     Route: 050
  712. ORENCIA [Suspect]
     Active Substance: ABATACEPT
     Dosage: 0.5 MG, Q24H
     Route: 065
  713. ORENCIA [Suspect]
     Active Substance: ABATACEPT
     Dosage: UNK
     Route: 050
  714. ORENCIA [Suspect]
     Active Substance: ABATACEPT
     Dosage: UNK
  715. ORENCIA [Suspect]
     Active Substance: ABATACEPT
     Dosage: 5 MG, QD
     Route: 065
  716. ORENCIA [Suspect]
     Active Substance: ABATACEPT
     Dosage: UNK
  717. ORENCIA [Suspect]
     Active Substance: ABATACEPT
     Dosage: UNK, SUBCUTANEOUS USE
  718. ORENCIA [Suspect]
     Active Substance: ABATACEPT
     Dosage: ROA: INTRAVENOUS DRIP
  719. ORENCIA [Suspect]
     Active Substance: ABATACEPT
     Dosage: ROA: VAGINAL USE
  720. ORENCIA [Suspect]
     Active Substance: ABATACEPT
     Dosage: UNK
     Route: 050
  721. ORENCIA [Suspect]
     Active Substance: ABATACEPT
     Dosage: UNK, INTRAVENOUS USE
  722. ORENCIA [Suspect]
     Active Substance: ABATACEPT
     Dosage: 5 MG, UNKNOWN ROUTE
     Route: 065
  723. ORENCIA [Suspect]
     Active Substance: ABATACEPT
     Dosage: 150 MG
     Route: 050
  724. ORENCIA [Suspect]
     Active Substance: ABATACEPT
     Dosage: UNK
  725. ORENCIA [Suspect]
     Active Substance: ABATACEPT
     Dosage: UNK, ROA: INTRAVENOUS DRIP
  726. ORENCIA [Suspect]
     Active Substance: ABATACEPT
  727. ORENCIA [Suspect]
     Active Substance: ABATACEPT
     Dosage: UNK
     Route: 050
  728. ORENCIA [Suspect]
     Active Substance: ABATACEPT
     Dosage: 250 MG
     Route: 050
  729. ORENCIA [Suspect]
     Active Substance: ABATACEPT
     Dosage: UNK
     Route: 050
  730. ORENCIA [Suspect]
     Active Substance: ABATACEPT
     Dosage: 750 MG
     Route: 050
  731. CETRIMIDE [Suspect]
     Active Substance: CETRIMIDE
     Indication: Product used for unknown indication
     Dosage: UNK
     Route: 065
  732. CETRIMIDE [Suspect]
     Active Substance: CETRIMIDE
     Dosage: UNK
  733. CETRIMIDE [Suspect]
     Active Substance: CETRIMIDE
     Dosage: UNK
  734. CETRIMIDE [Suspect]
     Active Substance: CETRIMIDE
     Dosage: UNK
  735. CETRIMIDE [Suspect]
     Active Substance: CETRIMIDE
     Dosage: UNK
  736. CETRIMIDE [Suspect]
     Active Substance: CETRIMIDE
     Dosage: UNK
  737. NICOTINAMIDE [Suspect]
     Active Substance: NIACINAMIDE
     Indication: Product used for unknown indication
     Dosage: UNK
  738. NICOTINAMIDE [Suspect]
     Active Substance: NIACINAMIDE
     Dosage: UNK
  739. NICOTINAMIDE [Suspect]
     Active Substance: NIACINAMIDE
     Dosage: UNK
  740. NICOTINAMIDE [Suspect]
     Active Substance: NIACINAMIDE
     Dosage: UNK
  741. NICOTINAMIDE [Suspect]
     Active Substance: NIACINAMIDE
     Dosage: UNK
  742. METHOTREXATE [Suspect]
     Active Substance: METHOTREXATE
     Indication: Rheumatoid arthritis
     Dosage: 25 MG, QW, INTRAARTERIAL USE
  743. METHOTREXATE [Suspect]
     Active Substance: METHOTREXATE
     Dosage: 50 MG, ROA: UNK
  744. METHOTREXATE [Suspect]
     Active Substance: METHOTREXATE
     Dosage: 20 MG, ROA: UNK
  745. METHOTREXATE [Suspect]
     Active Substance: METHOTREXATE
     Dosage: 15 MG, QD, ORAL ROUTE
  746. METHOTREXATE [Suspect]
     Active Substance: METHOTREXATE
     Dosage: 25 MG, INTRAARTERIAL USE
  747. METHOTREXATE [Suspect]
     Active Substance: METHOTREXATE
     Dosage: 20 MG, QD, SUBCUTANEOUS ROUTE
  748. METHOTREXATE [Suspect]
     Active Substance: METHOTREXATE
     Dosage: 20 MG, QW, SUBCUTANEOUS ROUTE
  749. METHOTREXATE [Suspect]
     Active Substance: METHOTREXATE
     Dosage: UNK, QD, ROA: UNK
  750. METHOTREXATE [Suspect]
     Active Substance: METHOTREXATE
     Dosage: UNK, QD, ROA: UNK
  751. METHOTREXATE [Suspect]
     Active Substance: METHOTREXATE
     Dosage: 25 MG, QD
  752. METHOTREXATE [Suspect]
     Active Substance: METHOTREXATE
     Dosage: UNK
  753. METHOTREXATE [Suspect]
     Active Substance: METHOTREXATE
     Dosage: UNK
  754. METHOTREXATE [Suspect]
     Active Substance: METHOTREXATE
     Dosage: 20 MG, QD, SUBCUTANEOUS USE
     Route: 050
  755. METHOTREXATE [Suspect]
     Active Substance: METHOTREXATE
     Dosage: 15 MG, QD, UNKNOWN ROUTE
     Route: 065
  756. METHOTREXATE [Suspect]
     Active Substance: METHOTREXATE
     Dosage: 1 DOSAGE FORM
     Route: 050
  757. METHOTREXATE [Suspect]
     Active Substance: METHOTREXATE
     Dosage: 1 DOSAGE FORM
     Route: 050
  758. METHOTREXATE [Suspect]
     Active Substance: METHOTREXATE
     Dosage: 20 MG, QD
     Route: 050
  759. METHOTREXATE [Suspect]
     Active Substance: METHOTREXATE
     Dosage: 25 MG, SUBCUTANEOUS USE
     Route: 050
  760. METHOTREXATE [Suspect]
     Active Substance: METHOTREXATE
     Dosage: 25 MG
     Route: 050
  761. METHOTREXATE [Suspect]
     Active Substance: METHOTREXATE
     Dosage: 2 DOSAGE FORM, SUBCUTANEOUS USE
     Route: 050
  762. METHOTREXATE [Suspect]
     Active Substance: METHOTREXATE
     Dosage: 25 MG, INTRAARTERIAL USE
     Route: 050
  763. METHOTREXATE [Suspect]
     Active Substance: METHOTREXATE
     Dosage: 25 MG, QD, INTRAARTERIAL USE
     Route: 050
  764. METHOTREXATE [Suspect]
     Active Substance: METHOTREXATE
     Dosage: 25 MG, QD, INTRAARTERIAL USE
     Route: 050
  765. METHOTREXATE [Suspect]
     Active Substance: METHOTREXATE
     Dosage: 25 MG, QD
     Route: 050
  766. METHOTREXATE [Suspect]
     Active Substance: METHOTREXATE
     Dosage: 2 DOSAGE FORM
     Route: 050
  767. METHOTREXATE [Suspect]
     Active Substance: METHOTREXATE
     Dosage: 20 MG, UNKNOWN ROUTE
     Route: 065
  768. METHOTREXATE [Suspect]
     Active Substance: METHOTREXATE
     Dosage: 25 MG, QW, INTRAARTERIAL USE
     Route: 050
  769. METHOTREXATE [Suspect]
     Active Substance: METHOTREXATE
     Dosage: 25 MG, INTRAARTERIAL USE
     Route: 050
  770. METHOTREXATE [Suspect]
     Active Substance: METHOTREXATE
     Dosage: 2 G
     Route: 050
  771. METHOTREXATE [Suspect]
     Active Substance: METHOTREXATE
     Dosage: 25 MG
     Route: 065
  772. METHOTREXATE [Suspect]
     Active Substance: METHOTREXATE
     Dosage: 25 G, QD
     Route: 050
  773. METHOTREXATE [Suspect]
     Active Substance: METHOTREXATE
     Dosage: 25 G
     Route: 050
  774. METHOTREXATE [Suspect]
     Active Substance: METHOTREXATE
     Dosage: UNK
     Route: 065
  775. METHOTREXATE [Suspect]
     Active Substance: METHOTREXATE
     Dosage: UNK
  776. METHOTREXATE [Suspect]
     Active Substance: METHOTREXATE
     Dosage: UNK
     Route: 065
  777. METHOTREXATE [Suspect]
     Active Substance: METHOTREXATE
     Dosage: UNK
  778. METHOTREXATE [Suspect]
     Active Substance: METHOTREXATE
     Dosage: 25 G, QW
     Route: 050
  779. METHOTREXATE [Suspect]
     Active Substance: METHOTREXATE
     Dosage: 25 MG, QW,, ROA: INTRAARTERIAL USE
     Route: 065
  780. METHOTREXATE [Suspect]
     Active Substance: METHOTREXATE
     Dosage: 20 MG, QD, UNKNOWN
     Route: 050
  781. METHOTREXATE [Suspect]
     Active Substance: METHOTREXATE
     Dosage: 1 G
     Route: 050
  782. NEOMYCIN [Suspect]
     Active Substance: NEOMYCIN
     Indication: Product used for unknown indication
     Dosage: UNK
     Route: 065
  783. NEOMYCIN [Suspect]
     Active Substance: NEOMYCIN
     Dosage: UNK
  784. NEOMYCIN [Suspect]
     Active Substance: NEOMYCIN
     Dosage: UNK
  785. NEOMYCIN [Suspect]
     Active Substance: NEOMYCIN
     Dosage: UNK
  786. NEOMYCIN [Suspect]
     Active Substance: NEOMYCIN
     Dosage: UNK
  787. NEOMYCIN [Suspect]
     Active Substance: NEOMYCIN
     Dosage: UNK
  788. SULFAMETHOXAZOLE [Suspect]
     Active Substance: SULFAMETHOXAZOLE
     Indication: Rheumatoid arthritis
     Route: 065
  789. SULFAMETHOXAZOLE [Suspect]
     Active Substance: SULFAMETHOXAZOLE
     Dosage: UNK
  790. SULFAMETHOXAZOLE [Suspect]
     Active Substance: SULFAMETHOXAZOLE
  791. SULFAMETHOXAZOLE [Suspect]
     Active Substance: SULFAMETHOXAZOLE
     Dosage: ROA: UNK
  792. CIMZIA [Suspect]
     Active Substance: CERTOLIZUMAB PEGOL
     Indication: Psoriasis
     Dosage: 400 MG, SOLUTION FOR INJECTION
     Route: 050
  793. CIMZIA [Suspect]
     Active Substance: CERTOLIZUMAB PEGOL
     Indication: Rheumatoid arthritis
     Dosage: 2 DOSAGE FORM
     Route: 050
  794. CIMZIA [Suspect]
     Active Substance: CERTOLIZUMAB PEGOL
     Dosage: 1 DOSAGE FORM, Q24H, SOLUTION FOR INJECTION
     Route: 050
  795. CIMZIA [Suspect]
     Active Substance: CERTOLIZUMAB PEGOL
     Dosage: UNK
     Route: 065
  796. CIMZIA [Suspect]
     Active Substance: CERTOLIZUMAB PEGOL
     Dosage: UNK
  797. CIMZIA [Suspect]
     Active Substance: CERTOLIZUMAB PEGOL
     Dosage: UNK
     Route: 050
  798. CIMZIA [Suspect]
     Active Substance: CERTOLIZUMAB PEGOL
     Dosage: UNK
  799. CIMZIA [Suspect]
     Active Substance: CERTOLIZUMAB PEGOL
     Dosage: UNK
  800. CIMZIA [Suspect]
     Active Substance: CERTOLIZUMAB PEGOL
     Dosage: UNK
     Route: 050
  801. CIMZIA [Suspect]
     Active Substance: CERTOLIZUMAB PEGOL
  802. FLUMETHASONE PIVALATE [Suspect]
     Active Substance: FLUMETHASONE PIVALATE
     Indication: Rheumatoid arthritis
     Dosage: UNK
     Route: 050
  803. FLUMETHASONE PIVALATE [Suspect]
     Active Substance: FLUMETHASONE PIVALATE
     Dosage: UNK
     Route: 050
  804. FLUMETHASONE PIVALATE [Suspect]
     Active Substance: FLUMETHASONE PIVALATE
     Dosage: UNK
     Route: 050
  805. FLUMETHASONE PIVALATE [Suspect]
     Active Substance: FLUMETHASONE PIVALATE
     Dosage: UNK
     Route: 050
  806. FLUMETHASONE PIVALATE [Suspect]
     Active Substance: FLUMETHASONE PIVALATE
     Dosage: UNK
     Route: 065
  807. FLUMETHASONE PIVALATE [Suspect]
     Active Substance: FLUMETHASONE PIVALATE
     Dosage: UNK
  808. FLUMETHASONE PIVALATE [Suspect]
     Active Substance: FLUMETHASONE PIVALATE
     Dosage: UNK
  809. FLUMETHASONE PIVALATE [Suspect]
     Active Substance: FLUMETHASONE PIVALATE
     Dosage: UNK
     Route: 050
  810. FLUMETHASONE PIVALATE [Suspect]
     Active Substance: FLUMETHASONE PIVALATE
     Dosage: UNK
  811. FLUMETHASONE PIVALATE [Suspect]
     Active Substance: FLUMETHASONE PIVALATE
     Dosage: UNK, SUBCUTANEOUS USE
  812. FLUMETHASONE PIVALATE [Suspect]
     Active Substance: FLUMETHASONE PIVALATE
     Dosage: UNK
     Route: 050
  813. FLUMETHASONE PIVALATE [Suspect]
     Active Substance: FLUMETHASONE PIVALATE
     Dosage: UNK, SUBCUTANEOUS USE
  814. HUMIRA [Suspect]
     Active Substance: ADALIMUMAB
     Indication: Rheumatoid arthritis
     Dosage: 40 MG, SUBCUTANEOUS USE
     Route: 050
  815. HUMIRA [Suspect]
     Active Substance: ADALIMUMAB
     Indication: Psoriatic arthropathy
     Dosage: 40 MG, SUBCUTANEOUS USE
     Route: 050
  816. HUMIRA [Suspect]
     Active Substance: ADALIMUMAB
     Dosage: UNK
     Route: 050
  817. HUMIRA [Suspect]
     Active Substance: ADALIMUMAB
     Dosage: UNK
     Route: 050
  818. HUMIRA [Suspect]
     Active Substance: ADALIMUMAB
     Dosage: UNK, SUBCUTANEOUS USE
  819. HUMIRA [Suspect]
     Active Substance: ADALIMUMAB
     Dosage: 40 MG, SUBCONJUNCTIVAL USE
     Route: 050
  820. HUMIRA [Suspect]
     Active Substance: ADALIMUMAB
     Dosage: 40 MG
     Route: 050
  821. HUMIRA [Suspect]
     Active Substance: ADALIMUMAB
     Dosage: UNK
     Route: 050
  822. HUMIRA [Suspect]
     Active Substance: ADALIMUMAB
     Dosage: UNK, SUBCONJUNCTIVAL USE
  823. HUMIRA [Suspect]
     Active Substance: ADALIMUMAB
     Dosage: 4 MG, SUBCUTANEOUS USE
     Route: 050
  824. HUMIRA [Suspect]
     Active Substance: ADALIMUMAB
     Dosage: UNK
     Route: 050
  825. HUMIRA [Suspect]
     Active Substance: ADALIMUMAB
     Dosage: UNK
     Route: 050
  826. HUMIRA [Suspect]
     Active Substance: ADALIMUMAB
     Dosage: UNK
     Route: 050
  827. PLAQUENIL [Suspect]
     Active Substance: HYDROXYCHLOROQUINE SULFATE
     Indication: Rheumatoid arthritis
     Dosage: UNK
  828. PLAQUENIL [Suspect]
     Active Substance: HYDROXYCHLOROQUINE SULFATE
     Dosage: UNK
  829. PLAQUENIL [Suspect]
     Active Substance: HYDROXYCHLOROQUINE SULFATE
     Dosage: UNK
  830. PLAQUENIL [Suspect]
     Active Substance: HYDROXYCHLOROQUINE SULFATE
     Dosage: UNK, ROA: UNKNOWN
  831. PLAQUENIL [Suspect]
     Active Substance: HYDROXYCHLOROQUINE SULFATE
     Dosage: 400 MG, QD
     Route: 050
  832. PLAQUENIL [Suspect]
     Active Substance: HYDROXYCHLOROQUINE SULFATE
     Dosage: UNK
  833. PLAQUENIL [Suspect]
     Active Substance: HYDROXYCHLOROQUINE SULFATE
     Dosage: UNK
  834. PLAQUENIL [Suspect]
     Active Substance: HYDROXYCHLOROQUINE SULFATE
     Dosage: UNK
  835. PLAQUENIL [Suspect]
     Active Substance: HYDROXYCHLOROQUINE SULFATE
     Dosage: UNK, ROA: UNKNOWN
  836. PLAQUENIL [Suspect]
     Active Substance: HYDROXYCHLOROQUINE SULFATE
     Dosage: UNK
  837. PLAQUENIL [Suspect]
     Active Substance: HYDROXYCHLOROQUINE SULFATE
     Dosage: UNK, ROA: UNKNOWN
  838. PLAQUENIL [Suspect]
     Active Substance: HYDROXYCHLOROQUINE SULFATE
     Dosage: 400 MG
     Route: 050
  839. PLAQUENIL [Suspect]
     Active Substance: HYDROXYCHLOROQUINE SULFATE
     Dosage: UNK
  840. PLAQUENIL [Suspect]
     Active Substance: HYDROXYCHLOROQUINE SULFATE
     Dosage: UNK, ROA: UNKNOWN
  841. PLAQUENIL [Suspect]
     Active Substance: HYDROXYCHLOROQUINE SULFATE
     Dosage: 400 MG, QD
     Route: 050
  842. TRIAMCINOLONE [Suspect]
     Active Substance: TRIAMCINOLONE
     Indication: Product used for unknown indication
     Dosage: UNK
  843. TRIAMCINOLONE [Suspect]
     Active Substance: TRIAMCINOLONE
     Dosage: INTRAARTICULAR USE
  844. FOLIC ACID [Suspect]
     Active Substance: FOLIC ACID
     Indication: Rheumatoid arthritis
     Dosage: 5 MG, QD
     Route: 065
  845. FOLIC ACID [Suspect]
     Active Substance: FOLIC ACID
     Dosage: 1 MG
     Route: 050
  846. FOLIC ACID [Suspect]
     Active Substance: FOLIC ACID
     Dosage: 0.5 MG, UNKNOWN ROUTE
     Route: 065
  847. FOLIC ACID [Suspect]
     Active Substance: FOLIC ACID
     Dosage: 1 MG
     Route: 050
  848. FOLIC ACID [Suspect]
     Active Substance: FOLIC ACID
     Dosage: 1 MG, UNKNOWN ROUTE
     Route: 065
  849. FOLIC ACID [Suspect]
     Active Substance: FOLIC ACID
     Dosage: 500 MG, UNKNOWN ROUTE
     Route: 050
  850. FOLIC ACID [Suspect]
     Active Substance: FOLIC ACID
     Dosage: 500 G, UNKNOWN ROUTE
     Route: 065
  851. FOLIC ACID [Suspect]
     Active Substance: FOLIC ACID
     Dosage: 25 MG
     Route: 065
  852. FOLIC ACID [Suspect]
     Active Substance: FOLIC ACID
     Dosage: 500 MG, UNKNOWN ROUTE
     Route: 065
  853. FOLIC ACID [Suspect]
     Active Substance: FOLIC ACID
     Dosage: 500 G, UNKNOWN ROUTE
     Route: 065
  854. FOLIC ACID [Suspect]
     Active Substance: FOLIC ACID
     Dosage: 5 MG, UNKNOWN ROUTE
     Route: 050
  855. FOLIC ACID [Suspect]
     Active Substance: FOLIC ACID
     Dosage: 5 MG, UNKNOWN ROUTE
     Route: 065
  856. FOLIC ACID [Suspect]
     Active Substance: FOLIC ACID
     Dosage: 25 MG, UNKNOWN ROUTE
     Route: 050
  857. FOLIC ACID [Suspect]
     Active Substance: FOLIC ACID
     Dosage: UNK
  858. FOLIC ACID [Suspect]
     Active Substance: FOLIC ACID
     Dosage: UNK
     Route: 050
  859. FOLIC ACID [Suspect]
     Active Substance: FOLIC ACID
     Dosage: UNK
     Route: 050
  860. FOLIC ACID [Suspect]
     Active Substance: FOLIC ACID
     Dosage: UNK, UNKNOWN ROUTE
  861. FOLIC ACID [Suspect]
     Active Substance: FOLIC ACID
     Dosage: 3 MG, UNKNOWN ROUTE
     Route: 065
  862. FOLIC ACID [Suspect]
     Active Substance: FOLIC ACID
     Dosage: 50 MG, UNKNOWN ROUTE
     Route: 065
  863. FOLIC ACID [Suspect]
     Active Substance: FOLIC ACID
     Dosage: 1 DOSAGE FORM, UNKNOWN ROUTE
     Route: 065
  864. FOLIC ACID [Suspect]
     Active Substance: FOLIC ACID
     Dosage: UNK
  865. FOLIC ACID [Suspect]
     Active Substance: FOLIC ACID
     Dosage: UNK, UNKNOWN ROUTE
  866. FOLIC ACID [Suspect]
     Active Substance: FOLIC ACID
     Dosage: 5 MG
     Route: 065
  867. FOLIC ACID [Suspect]
     Active Substance: FOLIC ACID
     Dosage: 1 MG, UNKNOWN ROUTE
     Route: 065
  868. FOLIC ACID [Suspect]
     Active Substance: FOLIC ACID
     Dosage: 1 MG, UNKNOWN ROUTE
     Route: 065
  869. FOLIC ACID [Suspect]
     Active Substance: FOLIC ACID
     Dosage: 1 G, UNKNOWN ROUTE
     Route: 065
  870. FOLIC ACID [Suspect]
     Active Substance: FOLIC ACID
     Dosage: 5 MG, UNKNOWN ROUTE
     Route: 065
  871. FOLIC ACID [Suspect]
     Active Substance: FOLIC ACID
     Dosage: 1 MG, UNKNOWN ROUTE
     Route: 065
  872. FOLIC ACID [Suspect]
     Active Substance: FOLIC ACID
     Dosage: UNK
     Route: 065
  873. FOLIC ACID [Suspect]
     Active Substance: FOLIC ACID
     Dosage: UNK
  874. FOLIC ACID [Suspect]
     Active Substance: FOLIC ACID
     Dosage: UNK
     Route: 065
  875. FOLIC ACID [Suspect]
     Active Substance: FOLIC ACID
     Dosage: UNK
  876. FOLIC ACID [Suspect]
     Active Substance: FOLIC ACID
     Dosage: UNK
     Route: 050
  877. FOLIC ACID [Suspect]
     Active Substance: FOLIC ACID
     Dosage: UNK, SUBCUTANEOUS USE
  878. FOLIC ACID [Suspect]
     Active Substance: FOLIC ACID
     Dosage: 15 MG
     Route: 050
  879. FOLIC ACID [Suspect]
     Active Substance: FOLIC ACID
     Dosage: 500 MG
     Route: 065
  880. OXYCODONE TEREPHTHALATE [Suspect]
     Active Substance: OXYCODONE TEREPHTHALATE
     Indication: Product used for unknown indication
     Dosage: UNK
  881. OXYCODONE TEREPHTHALATE [Suspect]
     Active Substance: OXYCODONE TEREPHTHALATE
     Dosage: UNK
  882. OXYCODONE TEREPHTHALATE [Suspect]
     Active Substance: OXYCODONE TEREPHTHALATE
     Dosage: UNK
  883. PHTHALYLSULFATHIAZOLE [Suspect]
     Active Substance: PHTHALYLSULFATHIAZOLE
     Indication: Rheumatoid arthritis
     Dosage: 500 MG, UNKNOWN ROUTE
  884. PHTHALYLSULFATHIAZOLE [Suspect]
     Active Substance: PHTHALYLSULFATHIAZOLE
     Dosage: UNK
     Route: 050
  885. PHTHALYLSULFATHIAZOLE [Suspect]
     Active Substance: PHTHALYLSULFATHIAZOLE
     Dosage: UNK
  886. PHTHALYLSULFATHIAZOLE [Suspect]
     Active Substance: PHTHALYLSULFATHIAZOLE
     Dosage: UNK
  887. PHTHALYLSULFATHIAZOLE [Suspect]
     Active Substance: PHTHALYLSULFATHIAZOLE
     Dosage: UNK, UNKNOWN ROUTE
  888. PHTHALYLSULFATHIAZOLE [Suspect]
     Active Substance: PHTHALYLSULFATHIAZOLE
     Dosage: 1000 MG
     Route: 050
  889. PHTHALYLSULFATHIAZOLE [Suspect]
     Active Substance: PHTHALYLSULFATHIAZOLE
     Dosage: UNK
     Route: 050
  890. PHTHALYLSULFATHIAZOLE [Suspect]
     Active Substance: PHTHALYLSULFATHIAZOLE
     Dosage: UNK
  891. PHTHALYLSULFATHIAZOLE [Suspect]
     Active Substance: PHTHALYLSULFATHIAZOLE
     Dosage: UNK
     Route: 050
  892. PHTHALYLSULFATHIAZOLE [Suspect]
     Active Substance: PHTHALYLSULFATHIAZOLE
     Dosage: UNK, UNKNOWN ROUTE
  893. PHTHALYLSULFATHIAZOLE [Suspect]
     Active Substance: PHTHALYLSULFATHIAZOLE
     Dosage: 500 MG
     Route: 065
  894. PHTHALYLSULFATHIAZOLE [Suspect]
     Active Substance: PHTHALYLSULFATHIAZOLE
     Dosage: UNK
     Route: 065
  895. PHTHALYLSULFATHIAZOLE [Suspect]
     Active Substance: PHTHALYLSULFATHIAZOLE
     Dosage: UNK
     Route: 050
  896. PHTHALYLSULFATHIAZOLE [Suspect]
     Active Substance: PHTHALYLSULFATHIAZOLE
     Dosage: UNK
  897. PHTHALYLSULFATHIAZOLE [Suspect]
     Active Substance: PHTHALYLSULFATHIAZOLE
     Dosage: UNK
  898. PHTHALYLSULFATHIAZOLE [Suspect]
     Active Substance: PHTHALYLSULFATHIAZOLE
     Dosage: UNK
  899. PHTHALYLSULFATHIAZOLE [Suspect]
     Active Substance: PHTHALYLSULFATHIAZOLE
     Dosage: 1000 MG
     Route: 050
  900. PHTHALYLSULFATHIAZOLE [Suspect]
     Active Substance: PHTHALYLSULFATHIAZOLE
     Dosage: UNK
  901. PHTHALYLSULFATHIAZOLE [Suspect]
     Active Substance: PHTHALYLSULFATHIAZOLE
     Dosage: UNK
  902. PHTHALYLSULFATHIAZOLE [Suspect]
     Active Substance: PHTHALYLSULFATHIAZOLE
     Dosage: UNK, INTRACARDIAC USE
  903. PHTHALYLSULFATHIAZOLE [Suspect]
     Active Substance: PHTHALYLSULFATHIAZOLE
     Dosage: UNK
  904. PHTHALYLSULFATHIAZOLE [Suspect]
     Active Substance: PHTHALYLSULFATHIAZOLE
     Dosage: UNK
  905. PHTHALYLSULFATHIAZOLE [Suspect]
     Active Substance: PHTHALYLSULFATHIAZOLE
     Dosage: 2000 MG
     Route: 050
  906. PHTHALYLSULFATHIAZOLE [Suspect]
     Active Substance: PHTHALYLSULFATHIAZOLE
     Dosage: 400 MG, QD, UNKNOWN ROUTE
     Route: 065
  907. PHTHALYLSULFATHIAZOLE [Suspect]
     Active Substance: PHTHALYLSULFATHIAZOLE
     Dosage: 1000 MG, BID
     Route: 050
  908. PHTHALYLSULFATHIAZOLE [Suspect]
     Active Substance: PHTHALYLSULFATHIAZOLE
     Dosage: UNK
  909. PHTHALYLSULFATHIAZOLE [Suspect]
     Active Substance: PHTHALYLSULFATHIAZOLE
     Dosage: UNK, UNKNOWN ROUTE
  910. PHTHALYLSULFATHIAZOLE [Suspect]
     Active Substance: PHTHALYLSULFATHIAZOLE
     Dosage: UNK
  911. PHTHALYLSULFATHIAZOLE [Suspect]
     Active Substance: PHTHALYLSULFATHIAZOLE
     Dosage: UNK, IV USE
  912. PHTHALYLSULFATHIAZOLE [Suspect]
     Active Substance: PHTHALYLSULFATHIAZOLE
     Dosage: 500 MG, BID
     Route: 050
  913. PHTHALYLSULFATHIAZOLE [Suspect]
     Active Substance: PHTHALYLSULFATHIAZOLE
     Dosage: UNK
  914. PHTHALYLSULFATHIAZOLE [Suspect]
     Active Substance: PHTHALYLSULFATHIAZOLE
     Dosage: UNK, INTRAVENOUS USE
  915. PHTHALYLSULFATHIAZOLE [Suspect]
     Active Substance: PHTHALYLSULFATHIAZOLE
     Dosage: UNK
  916. PHTHALYLSULFATHIAZOLE [Suspect]
     Active Substance: PHTHALYLSULFATHIAZOLE
     Dosage: UNK, ROA: INTRACARDIAC USE
  917. PHTHALYLSULFATHIAZOLE [Suspect]
     Active Substance: PHTHALYLSULFATHIAZOLE
     Dosage: UNK, SUBCUTANEOUS USE
  918. PHTHALYLSULFATHIAZOLE [Suspect]
     Active Substance: PHTHALYLSULFATHIAZOLE
     Dosage: 1000 MG, BID, UNKNOWN ROUTE
     Route: 065
  919. PHTHALYLSULFATHIAZOLE [Suspect]
     Active Substance: PHTHALYLSULFATHIAZOLE
     Dosage: UNK
     Route: 050
  920. PHTHALYLSULFATHIAZOLE [Suspect]
     Active Substance: PHTHALYLSULFATHIAZOLE
     Dosage: UNK, Q24H
     Route: 050
  921. PHTHALYLSULFATHIAZOLE [Suspect]
     Active Substance: PHTHALYLSULFATHIAZOLE
     Dosage: UNK, ROA: INTRACARDIAC USE
  922. PHTHALYLSULFATHIAZOLE [Suspect]
     Active Substance: PHTHALYLSULFATHIAZOLE
     Dosage: UNK
  923. PHTHALYLSULFATHIAZOLE [Suspect]
     Active Substance: PHTHALYLSULFATHIAZOLE
     Dosage: UNK
  924. PHTHALYLSULFATHIAZOLE [Suspect]
     Active Substance: PHTHALYLSULFATHIAZOLE
     Dosage: UNK
     Route: 050
  925. PHTHALYLSULFATHIAZOLE [Suspect]
     Active Substance: PHTHALYLSULFATHIAZOLE
     Dosage: UNK, INTRACARDIAC USE
  926. LEFLUNOMIDE [Suspect]
     Active Substance: LEFLUNOMIDE
     Indication: Rheumatoid arthritis
     Dosage: 20 MG, QD
  927. LEFLUNOMIDE [Suspect]
     Active Substance: LEFLUNOMIDE
     Dosage: 5 MG
     Route: 048
  928. LEFLUNOMIDE [Suspect]
     Active Substance: LEFLUNOMIDE
  929. LEFLUNOMIDE [Suspect]
     Active Substance: LEFLUNOMIDE
     Dosage: 20 MG
  930. CETIRIZINE [Suspect]
     Active Substance: CETIRIZINE HYDROCHLORIDE
     Indication: Rheumatoid arthritis
     Dosage: 10 MG
     Route: 065
  931. CETIRIZINE [Suspect]
     Active Substance: CETIRIZINE HYDROCHLORIDE
     Indication: Off label use
     Dosage: 10 MG
     Route: 050
  932. CETIRIZINE [Suspect]
     Active Substance: CETIRIZINE HYDROCHLORIDE
     Dosage: UNK
  933. CETIRIZINE [Suspect]
     Active Substance: CETIRIZINE HYDROCHLORIDE
     Dosage: 10 MG, QD
     Route: 048
  934. CETIRIZINE [Suspect]
     Active Substance: CETIRIZINE HYDROCHLORIDE
     Dosage: 25 MG
  935. CETIRIZINE [Suspect]
     Active Substance: CETIRIZINE HYDROCHLORIDE
     Dosage: UNK
  936. CETIRIZINE [Suspect]
     Active Substance: CETIRIZINE HYDROCHLORIDE
     Dosage: UNK
  937. CETIRIZINE [Suspect]
     Active Substance: CETIRIZINE HYDROCHLORIDE
     Dosage: 10 MG
     Route: 048
  938. CETIRIZINE [Suspect]
     Active Substance: CETIRIZINE HYDROCHLORIDE
     Dosage: 25 MG
     Route: 050
  939. CETIRIZINE [Suspect]
     Active Substance: CETIRIZINE HYDROCHLORIDE
     Dosage: 25 MG
  940. CETIRIZINE [Suspect]
     Active Substance: CETIRIZINE HYDROCHLORIDE
     Dosage: 20 MG
  941. CETIRIZINE [Suspect]
     Active Substance: CETIRIZINE HYDROCHLORIDE
     Dosage: UNK
     Route: 065
  942. CETIRIZINE [Suspect]
     Active Substance: CETIRIZINE HYDROCHLORIDE
     Dosage: UNK
  943. ACETAMINOPHEN\PROPOXYPHENE HYDROCHLORIDE [Suspect]
     Active Substance: ACETAMINOPHEN\PROPOXYPHENE HYDROCHLORIDE
     Indication: Product used for unknown indication
     Dosage: UNK
     Route: 065
  944. ACETAMINOPHEN\PROPOXYPHENE HYDROCHLORIDE [Suspect]
     Active Substance: ACETAMINOPHEN\PROPOXYPHENE HYDROCHLORIDE
     Dosage: UNK
  945. ACETAMINOPHEN\PROPOXYPHENE HYDROCHLORIDE [Suspect]
     Active Substance: ACETAMINOPHEN\PROPOXYPHENE HYDROCHLORIDE
  946. ANAKINRA [Suspect]
     Active Substance: ANAKINRA
     Indication: Rheumatoid arthritis
     Dosage: 50 MG, QD
     Route: 065
  947. ANAKINRA [Suspect]
     Active Substance: ANAKINRA
     Dosage: 100 MG
     Route: 065
  948. APREMILAST [Suspect]
     Active Substance: APREMILAST
     Indication: Product used for unknown indication
     Dosage: 3 MG, BID
  949. APREMILAST [Suspect]
     Active Substance: APREMILAST
     Dosage: 3MG
     Route: 065
  950. DESOXIMETASONE [Suspect]
     Active Substance: DESOXIMETASONE
     Indication: Rheumatoid arthritis
     Dosage: 25 MG, QW
     Route: 048
  951. DESOXIMETASONE [Suspect]
     Active Substance: DESOXIMETASONE
     Dosage: UNK (TOPICAL)
     Route: 065
  952. DESOXIMETASONE [Suspect]
     Active Substance: DESOXIMETASONE
     Dosage: UNK
     Route: 050
  953. DESOXIMETASONE [Suspect]
     Active Substance: DESOXIMETASONE
     Dosage: UNK
     Route: 050
  954. DESOXIMETASONE [Suspect]
     Active Substance: DESOXIMETASONE
     Dosage: UNK (TOPICAL)
  955. DESOXIMETASONE [Suspect]
     Active Substance: DESOXIMETASONE
     Dosage: UNK
     Route: 050
  956. DESOXIMETASONE [Suspect]
     Active Substance: DESOXIMETASONE
     Dosage: UNK (CREAM)
     Route: 050
  957. DESOXIMETASONE [Suspect]
     Active Substance: DESOXIMETASONE
     Dosage: UNK
     Route: 050
  958. DESOXIMETASONE [Suspect]
     Active Substance: DESOXIMETASONE
     Route: 058
  959. DESOXIMETASONE [Suspect]
     Active Substance: DESOXIMETASONE
     Dosage: 25 MG
  960. DESOXIMETASONE [Suspect]
     Active Substance: DESOXIMETASONE
     Dosage: UNK
     Route: 050
  961. DESOXIMETASONE [Suspect]
     Active Substance: DESOXIMETASONE
     Dosage: UNK, ROA: CUTANEOUS USE
  962. DESOXIMETASONE [Suspect]
     Active Substance: DESOXIMETASONE
     Route: 048
  963. DESOXIMETASONE [Suspect]
     Active Substance: DESOXIMETASONE
     Dosage: UNK
  964. DESOXIMETASONE [Suspect]
     Active Substance: DESOXIMETASONE
     Dosage: UNK
     Route: 050
  965. DESOXIMETASONE [Suspect]
     Active Substance: DESOXIMETASONE
     Dosage: UNK, ROA: CUTANEOUS USE
  966. DESOXIMETASONE [Suspect]
     Active Substance: DESOXIMETASONE
     Dosage: UNK
  967. DESOXIMETASONE [Suspect]
     Active Substance: DESOXIMETASONE
     Dosage: UNK
     Route: 050
  968. DESOXIMETASONE [Suspect]
     Active Substance: DESOXIMETASONE
     Dosage: UNK
     Route: 050
  969. DESOXIMETASONE [Suspect]
     Active Substance: DESOXIMETASONE
     Dosage: UNK
     Route: 050
  970. DESOXIMETASONE [Suspect]
     Active Substance: DESOXIMETASONE
     Dosage: 25 MG
  971. DESOXIMETASONE [Suspect]
     Active Substance: DESOXIMETASONE
     Dosage: UNK, TOPICAL
  972. DESOXIMETASONE [Suspect]
     Active Substance: DESOXIMETASONE
     Dosage: UNK
     Route: 050
  973. DESOXIMETASONE [Suspect]
     Active Substance: DESOXIMETASONE
     Dosage: 25 MG
     Route: 050
  974. DESOXIMETASONE [Suspect]
     Active Substance: DESOXIMETASONE
     Dosage: UNK
     Route: 050
  975. DESOXIMETASONE [Suspect]
     Active Substance: DESOXIMETASONE
     Dosage: UNK
  976. DESOXIMETASONE [Suspect]
     Active Substance: DESOXIMETASONE
     Dosage: UNK
     Route: 050
  977. DESOXIMETASONE [Suspect]
     Active Substance: DESOXIMETASONE
     Dosage: UNK, CUTANEOUS USE
  978. DESOXIMETASONE [Suspect]
     Active Substance: DESOXIMETASONE
     Dosage: UNK
     Route: 050
  979. DESOXIMETASONE [Suspect]
     Active Substance: DESOXIMETASONE
     Dosage: UNK
     Route: 065
  980. DESOXIMETASONE [Suspect]
     Active Substance: DESOXIMETASONE
     Dosage: 25 MG
     Route: 050
  981. LEVOCETIRIZINE HYDROCHLORIDE [Suspect]
     Active Substance: LEVOCETIRIZINE HYDROCHLORIDE
     Indication: Product used for unknown indication
     Dosage: UNK
     Route: 065
  982. LEVOCETIRIZINE HYDROCHLORIDE [Suspect]
     Active Substance: LEVOCETIRIZINE HYDROCHLORIDE
     Dosage: UNK
  983. LEVOCETIRIZINE HYDROCHLORIDE [Suspect]
     Active Substance: LEVOCETIRIZINE HYDROCHLORIDE
  984. DOXYCYCLINE [Suspect]
     Active Substance: DOXYCYCLINE
     Indication: Product used for unknown indication
     Dosage: 40 MG
     Route: 065
  985. FOSAMAX [Suspect]
     Active Substance: ALENDRONATE SODIUM
     Indication: Rheumatoid arthritis
     Dosage: UNK
     Route: 050
  986. FOSAMAX [Suspect]
     Active Substance: ALENDRONATE SODIUM
     Dosage: UNK
     Route: 050
  987. FOSAMAX [Suspect]
     Active Substance: ALENDRONATE SODIUM
     Dosage: UNK
     Route: 065
  988. FOSAMAX [Suspect]
     Active Substance: ALENDRONATE SODIUM
     Dosage: UNK
  989. FOSAMAX [Suspect]
     Active Substance: ALENDRONATE SODIUM
  990. FOSAMAX [Suspect]
     Active Substance: ALENDRONATE SODIUM
     Dosage: UNK
     Route: 050
  991. FOSAMAX [Suspect]
     Active Substance: ALENDRONATE SODIUM
     Route: 048
  992. INFLIXIMAB [Suspect]
     Active Substance: INFLIXIMAB
     Indication: Rheumatoid arthritis
     Dosage: UNK
     Route: 050
  993. INFLIXIMAB [Suspect]
     Active Substance: INFLIXIMAB
     Indication: Product used for unknown indication
     Dosage: UNK
     Route: 050
  994. INFLIXIMAB [Suspect]
     Active Substance: INFLIXIMAB
     Dosage: 5 MG/KG
     Route: 065
  995. INFLIXIMAB [Suspect]
     Active Substance: INFLIXIMAB
     Dosage: 400 MG
  996. INFLIXIMAB [Suspect]
     Active Substance: INFLIXIMAB
     Dosage: 3 MG/KG
     Route: 065
  997. INFLIXIMAB [Suspect]
     Active Substance: INFLIXIMAB
     Dosage: 400 MG
     Route: 050
  998. INFLIXIMAB [Suspect]
     Active Substance: INFLIXIMAB
     Dosage: UNK
     Route: 050
  999. INFLIXIMAB [Suspect]
     Active Substance: INFLIXIMAB
     Dosage: UNK
     Route: 050
  1000. INFLIXIMAB [Suspect]
     Active Substance: INFLIXIMAB
     Route: 042
  1001. INFLIXIMAB [Suspect]
     Active Substance: INFLIXIMAB
     Dosage: 400 MG
  1002. RISEDRONIC ACID [Suspect]
     Active Substance: RISEDRONIC ACID
     Indication: Product used for unknown indication
     Dosage: UNK
     Route: 065
  1003. RISEDRONIC ACID [Suspect]
     Active Substance: RISEDRONIC ACID
     Dosage: UNK
  1004. RISEDRONIC ACID [Suspect]
     Active Substance: RISEDRONIC ACID
  1005. QUETIAPINE FUMARATE [Concomitant]
     Active Substance: QUETIAPINE FUMARATE
     Indication: Product used for unknown indication
     Dosage: UNK
     Route: 065
  1006. CAFFEINE [Concomitant]
     Active Substance: CAFFEINE
     Indication: Product used for unknown indication
     Dosage: UNK
     Route: 065
  1007. GLUCOSAMINE [Concomitant]
     Active Substance: GLUCOSAMINE
     Indication: Product used for unknown indication
     Dosage: UNK
     Route: 065
  1008. ACETAMINOPHEN\CODEINE PHOSPHATE [Concomitant]
     Active Substance: ACETAMINOPHEN\CODEINE PHOSPHATE
     Indication: Product used for unknown indication
     Dosage: UNK
     Route: 065
  1009. ATIVAN [Concomitant]
     Active Substance: LORAZEPAM
     Indication: Anxiety
     Dosage: 2 MG
     Route: 065
  1010. PREDNISOLONE [Concomitant]
     Active Substance: PREDNISOLONE
     Indication: Product used for unknown indication
     Dosage: UNK
     Route: 065
  1011. LEVOTHYROXINE SODIUM [Concomitant]
     Active Substance: LEVOTHYROXINE SODIUM
     Indication: Product used for unknown indication
     Dosage: UNK
     Route: 065
  1012. CHOLECALCIFEROL [Concomitant]
     Active Substance: CHOLECALCIFEROL
     Indication: Product used for unknown indication
     Dosage: UNK
     Route: 065
  1013. VITAMIN B12 [Concomitant]
     Active Substance: CYANOCOBALAMIN
     Indication: Product used for unknown indication
     Dosage: UNK
     Route: 065
  1014. LEVOCABASTINE [Concomitant]
     Active Substance: LEVOCABASTINE
     Indication: Product used for unknown indication
     Dosage: UNK
     Route: 065
  1015. IBUPROFEN [Concomitant]
     Active Substance: IBUPROFEN
     Indication: Product used for unknown indication
     Dosage: UNK
     Route: 065
  1016. PIROXICAM [Concomitant]
     Active Substance: PIROXICAM
     Indication: Product used for unknown indication
     Dosage: UNK
     Route: 065
  1017. CALCIUM GLUBIONATE [Concomitant]
     Active Substance: CALCIUM GLUBIONATE
     Indication: Product used for unknown indication
     Dosage: UNK
     Route: 065
  1018. PANTOPRAZOLE SODIUM ANHYDROUS [Concomitant]
     Active Substance: PANTOPRAZOLE SODIUM ANHYDROUS
     Indication: Product used for unknown indication
     Route: 065
  1019. OXYCODONE [Suspect]
     Active Substance: OXYCODONE
     Indication: Rheumatoid arthritis
     Route: 065
  1020. CELECOXIB [Suspect]
     Active Substance: CELECOXIB
     Indication: Product used for unknown indication
     Route: 048
  1021. CELECOXIB [Suspect]
     Active Substance: CELECOXIB
     Indication: Product used for unknown indication
     Route: 048
  1022. DILTIAZEM [Suspect]
     Active Substance: DILTIAZEM
     Indication: Product used for unknown indication
     Dosage: CAPSULE, EXTENDED RELEASE
     Route: 002
  1023. LEFLUNOMIDE [Suspect]
     Active Substance: LEFLUNOMIDE
     Indication: Rheumatoid arthritis
     Route: 048
  1024. LEFLUNOMIDE [Suspect]
     Active Substance: LEFLUNOMIDE
     Route: 048
  1025. LEFLUNOMIDE [Suspect]
     Active Substance: LEFLUNOMIDE
     Indication: Rheumatoid arthritis
     Route: 048
  1026. MYCOPHENOLATE MOFETIL [Suspect]
     Active Substance: MYCOPHENOLATE MOFETIL
     Indication: Product used for unknown indication
     Route: 065
  1027. TRIAMCINOLONE ACETONIDE [Suspect]
     Active Substance: TRIAMCINOLONE ACETONIDE
     Indication: Product used for unknown indication
     Route: 058
  1028. TRIAMCINOLONE ACETONIDE [Suspect]
     Active Substance: TRIAMCINOLONE ACETONIDE
     Route: 048

REACTIONS (87)
  - Arthralgia [Fatal]
  - Prescribed overdose [Fatal]
  - Off label use [Fatal]
  - Adrenal insufficiency [Fatal]
  - Contraindicated product administered [Fatal]
  - Drug ineffective [Fatal]
  - Stomatitis [Fatal]
  - Psoriasis [Fatal]
  - Hypercholesterolaemia [Fatal]
  - Injury [Fatal]
  - Product use in unapproved indication [Fatal]
  - C-reactive protein abnormal [Fatal]
  - Drug hypersensitivity [Fatal]
  - Fatigue [Fatal]
  - Urticaria [Fatal]
  - Exposure during pregnancy [Fatal]
  - Drug intolerance [Fatal]
  - Polyarthritis [Fatal]
  - Type 2 diabetes mellitus [Fatal]
  - Decreased appetite [Fatal]
  - Drug tolerance [Fatal]
  - Wheezing [Fatal]
  - Immunodeficiency [Fatal]
  - Therapeutic product effect decreased [Fatal]
  - Blister [Fatal]
  - Loss of consciousness [Fatal]
  - Hypertension [Fatal]
  - Product use issue [Fatal]
  - Infusion related reaction [Fatal]
  - Rheumatoid arthritis [Fatal]
  - Synovitis [Fatal]
  - Wound infection [Fatal]
  - Pemphigus [Fatal]
  - Hepatic enzyme increased [Fatal]
  - Systemic lupus erythematosus [Fatal]
  - Muscle spasms [Fatal]
  - Treatment failure [Fatal]
  - Intentional product use issue [Fatal]
  - Hand deformity [Fatal]
  - Joint swelling [Fatal]
  - Hypersensitivity [Fatal]
  - Leukopenia [Fatal]
  - Deep vein thrombosis postoperative [Fatal]
  - Hypertransaminasaemia [Fatal]
  - Oedema [Fatal]
  - Psoriatic arthropathy [Fatal]
  - Maternal exposure during pregnancy [Fatal]
  - Therapeutic response decreased [Fatal]
  - Contusion [Fatal]
  - Dizziness [Fatal]
  - Liver injury [Fatal]
  - Nasopharyngitis [Fatal]
  - Night sweats [Fatal]
  - Asthenia [Fatal]
  - Asthma [Fatal]
  - Blood cholesterol increased [Fatal]
  - Bursitis [Fatal]
  - C-reactive protein increased [Fatal]
  - Chest pain [Fatal]
  - Confusional state [Fatal]
  - Obesity [Fatal]
  - Osteoarthritis [Fatal]
  - Pain in extremity [Fatal]
  - Paraesthesia [Fatal]
  - Peripheral swelling [Fatal]
  - Peripheral venous disease [Fatal]
  - Product label confusion [Fatal]
  - Sleep disorder [Fatal]
  - Diarrhoea [Fatal]
  - Weight increased [Fatal]
  - Therapy non-responder [Fatal]
  - Infection [Fatal]
  - Joint destruction [Fatal]
  - Abdominal pain [Fatal]
  - Adverse drug reaction [Fatal]
  - Autoimmune disorder [Fatal]
  - Dislocation of vertebra [Fatal]
  - Blepharospasm [Fatal]
  - Dry mouth [Fatal]
  - Facet joint syndrome [Fatal]
  - Irritable bowel syndrome [Fatal]
  - Musculoskeletal stiffness [Fatal]
  - Pericarditis [Fatal]
  - Pregnancy [Fatal]
  - Prescribed underdose [Fatal]
  - Rheumatic fever [Fatal]
  - Sinusitis [Fatal]
